FAERS Safety Report 21615879 (Version 2)
Quarter: 2023Q1

REPORT INFORMATION
  Report Type: Spontaneous
  Country: CA (occurrence: CA)
  Receive Date: 20221118
  Receipt Date: 20230119
  Transmission Date: 20230418
  Serious: Yes (Death, Life-Threatening, Hospitalization, Disabling, Other)
  Sender: FDA-Public Use
  Company Number: CA-BAXTER-2022BAX015873

PATIENT
  Age: 80 Year
  Sex: Male
  Weight: 69 kg

DRUGS (494)
  1. NOREPINEPHRINE BITARTRATE [Suspect]
     Active Substance: NOREPINEPHRINE BITARTRATE
     Indication: Stress
     Dosage: QD, DOSAGE FORM - LIQUID INTRAVENOUS
     Route: 042
  2. NOREPINEPHRINE BITARTRATE [Suspect]
     Active Substance: NOREPINEPHRINE BITARTRATE
     Indication: Off label use
     Dosage: 30 MG, QD, DOSAGE FORM - LIQUID INTRAVENOUS
     Route: 048
  3. NOREPINEPHRINE BITARTRATE [Suspect]
     Active Substance: NOREPINEPHRINE BITARTRATE
     Indication: Intentional product misuse
     Dosage: 1 MILLIGRAM
     Route: 065
  4. NOREPINEPHRINE BITARTRATE [Suspect]
     Active Substance: NOREPINEPHRINE BITARTRATE
     Indication: Product used for unknown indication
     Dosage: DOSAGE FORM - LIQUID INTRAVENOUS
     Route: 042
  5. NOREPINEPHRINE BITARTRATE [Suspect]
     Active Substance: NOREPINEPHRINE BITARTRATE
     Dosage: 1 DF, DOSAGE FORM - LIQUID INTRAVENOUS
     Route: 048
  6. NOREPINEPHRINE BITARTRATE [Suspect]
     Active Substance: NOREPINEPHRINE BITARTRATE
     Dosage: 3 MG, QD, DOSAGE FORM - LIQUID INTRAVENOUS
     Route: 048
  7. CEFTRIAXONE [Suspect]
     Active Substance: CEFTRIAXONE
     Indication: Bacterial infection
     Dosage: 2 G, QD, DOSAGE FORM - POWDER FOR SOLUTION INTRAMUSCULAR
     Route: 042
     Dates: start: 20200530
  8. CEFTRIAXONE [Suspect]
     Active Substance: CEFTRIAXONE
     Indication: Off label use
     Dosage: 2 G, QD
     Route: 042
  9. CEFTRIAXONE [Suspect]
     Active Substance: CEFTRIAXONE
     Indication: Product used for unknown indication
     Dosage: 2 G
     Route: 065
  10. ANTICOAGULANT SODIUM CITRATE [Suspect]
     Active Substance: SODIUM CITRATE
     Indication: Thrombosis
     Dosage: AS DIRECTED, BLOCK 2.5 ML, PRN (4GM/100ML SOLUTION UNASSIGNED)
     Route: 065
     Dates: start: 20200603
  11. ANTICOAGULANT SODIUM CITRATE [Suspect]
     Active Substance: SODIUM CITRATE
     Indication: Anticoagulant therapy
     Dosage: 2.5 ML, NECESSARY (4GM/100ML SOLUTION UNASSIGNED) ANTICOAGULANT
     Route: 065
  12. ANTICOAGULANT SODIUM CITRATE [Suspect]
     Active Substance: SODIUM CITRATE
     Dosage: DOSAGE FORM: SOLUTION UNASSIGNED: AS REQUIRED
     Route: 065
  13. ANTICOAGULANT SODIUM CITRATE [Suspect]
     Active Substance: SODIUM CITRATE
     Dosage: 2.5 ML AS REQUIRED
     Route: 065
  14. ANTICOAGULANT SODIUM CITRATE [Suspect]
     Active Substance: SODIUM CITRATE
     Dosage: 2.5 MG AS REQUIRED ONCE DAILY
     Route: 065
  15. ANTICOAGULANT SODIUM CITRATE [Suspect]
     Active Substance: SODIUM CITRATE
     Dosage: 2.5 ML DOSAGE FORM NOT SPECIFIED
     Route: 065
  16. POTASSIUM CHLORIDE [Suspect]
     Active Substance: POTASSIUM CHLORIDE
     Indication: Constipation
     Dosage: 17 GM, QD, DOSAGE FORM: NOT SPECIFIED
     Route: 065
  17. POTASSIUM CHLORIDE [Suspect]
     Active Substance: POTASSIUM CHLORIDE
     Indication: Product used for unknown indication
     Dosage: 17 GM, QD, DOSAGE FORM: NOT SPECIFIED
     Route: 048
  18. SODIUM BICARBONATE [Suspect]
     Active Substance: SODIUM BICARBONATE
     Indication: Product used for unknown indication
     Dosage: 12.5 GRAMS, DOSAGE FORM: NOT SPECIFIED
     Route: 042
  19. HEPARIN SODIUM [Suspect]
     Active Substance: HEPARIN SODIUM
     Indication: Anticoagulant therapy
     Dosage: AS DIRECTED 50 ML, PRN
     Route: 042
     Dates: start: 20200530
  20. HEPARIN SODIUM [Suspect]
     Active Substance: HEPARIN SODIUM
     Indication: Off label use
     Dosage: 50 ML, PRN, QD, DOSAGE FORM - SOLUTION INTRAVENOUS
     Route: 042
     Dates: start: 20200602, end: 20200602
  21. HEPARIN SODIUM [Suspect]
     Active Substance: HEPARIN SODIUM
     Indication: Intentional product misuse
     Dosage: 250 ML, AS REQUIRED SOULTION INTRAVENOUS
     Route: 042
  22. HEPARIN SODIUM [Suspect]
     Active Substance: HEPARIN SODIUM
     Indication: Product used for unknown indication
     Dosage: 50 ML, SOULTION FORI INJECTION ONCE DAILY
     Route: 042
  23. HEPARIN SODIUM [Suspect]
     Active Substance: HEPARIN SODIUM
     Dosage: 50 ML, SOLUTION INTRAVENOUS, AS REQUIRED
     Route: 042
  24. HEPARIN SODIUM [Suspect]
     Active Substance: HEPARIN SODIUM
     Dosage: DOSAGE FORM: SOLUTION INTRAVENOUS FREQUENCY: AS REQUIRED
     Route: 042
  25. HEPARIN SODIUM [Suspect]
     Active Substance: HEPARIN SODIUM
     Dosage: 250 ML, SOULTION FOR INJECTION
     Route: 042
  26. HEPARIN SODIUM [Suspect]
     Active Substance: HEPARIN SODIUM
     Dosage: 50 ML, SOULTION FOR INJECTION
     Route: 042
  27. HEPARIN SODIUM [Suspect]
     Active Substance: HEPARIN SODIUM
     Dosage: 50 ML, SOLUTION INTRAVENOUS, AS REQUIRED
     Route: 042
  28. HEPARIN SODIUM [Suspect]
     Active Substance: HEPARIN SODIUM
     Dosage: 50 ML, DOSAGE FORM - SOLUTION INTRAVENOUS
     Route: 017
  29. DEXTROSE [Suspect]
     Active Substance: DEXTROSE
     Indication: Nutritional supplementation
     Dosage: AS DIRECTED 12.5 G, PRN
     Route: 042
     Dates: start: 20200601
  30. DEXTROSE [Suspect]
     Active Substance: DEXTROSE
     Indication: Product used for unknown indication
     Dosage: 12.5 MILLIGRAM AS REQUIRED DOSAGE FORM: NOT SPECIFIED
     Route: 042
  31. DEXTROSE [Suspect]
     Active Substance: DEXTROSE
     Dosage: 12.5 GRAM (G), DOSAGE FORM: LIQUID PARENTERAL (UNSPECIFIED) FREQUENCY: AS REQUIRED
     Route: 042
  32. DEXTROSE [Suspect]
     Active Substance: DEXTROSE
     Dosage: 12.5 GRAMS, DOSAGE FORM - NOT SPECIFIED
     Route: 042
  33. DEXTROSE [Suspect]
     Active Substance: DEXTROSE
     Dosage: 12.5 GRAM ONE EVERY ONE DAY, DOSAGE FORM - NOT SPECIFIED
     Route: 042
  34. DEXTROSE [Suspect]
     Active Substance: DEXTROSE
     Dosage: DOSAGE FORM NOT SPECIFIED
     Route: 042
  35. DEXTROSE [Suspect]
     Active Substance: DEXTROSE
     Dosage: 1 DF, QD, DOSAGE FORM - NOT SPECIFIED,
     Route: 058
  36. MANNITOL [Suspect]
     Active Substance: MANNITOL
     Indication: Nutritional supplementation
     Dosage: 12.5 GRAMS,DOSAGE FORM - NOT SPECIFIED
     Route: 042
  37. MANNITOL [Suspect]
     Active Substance: MANNITOL
     Indication: Product used for unknown indication
  38. ONDANSETRON [Suspect]
     Active Substance: ONDANSETRON
     Indication: Nausea
     Dosage: 4 MILLIGRAMS,3X A DAY
     Route: 042
     Dates: start: 20200601
  39. ONDANSETRON [Suspect]
     Active Substance: ONDANSETRON
     Indication: Vomiting
     Dosage: 12 MG, Q8H, DOSAGE FORM - NOT SPECIFIED
     Route: 042
  40. ONDANSETRON [Suspect]
     Active Substance: ONDANSETRON
     Indication: Product used for unknown indication
     Dosage: 41 MG, Q8H
     Route: 042
  41. ONDANSETRON [Suspect]
     Active Substance: ONDANSETRON
     Indication: Off label use
     Dosage: 108 MILLIGRAMS
     Route: 042
  42. ONDANSETRON [Suspect]
     Active Substance: ONDANSETRON
     Dosage: 36 MILLIGRAMS, 3 EVERY 1 DAYS, DOSAGE FORM - NOT SPECIFIED
     Route: 042
  43. ONDANSETRON [Suspect]
     Active Substance: ONDANSETRON
     Dosage: 120 MILLIGRAMS
     Route: 042
  44. ONDANSETRON [Suspect]
     Active Substance: ONDANSETRON
     Dosage: 1 DOSAGE FORM (1 EVERY 1 DAYS), DOSAGE FORM - NOT SPECIFIED
     Route: 042
  45. ONDANSETRON [Suspect]
     Active Substance: ONDANSETRON
     Dosage: 4 MG, 1 EVERY 3 DAYS, DOSAGE FORM - NOT SPECIFIED
     Route: 042
  46. ONDANSETRON [Suspect]
     Active Substance: ONDANSETRON
     Dosage: 4 MG, ONCE EVERY 8 HOURS, DOSAGE FORM - NOT SPECIFIED
     Route: 042
  47. ONDANSETRON [Suspect]
     Active Substance: ONDANSETRON
     Dosage: 41.14 MG, ONCE, DOSAGE FORM - NOT SPECIFIED
     Route: 042
  48. ONDANSETRON [Suspect]
     Active Substance: ONDANSETRON
     Dosage: 8 MG,ONCE EVERY 8 HOURS, DOSAGE FORM - NOT SPECIFIED
     Route: 042
  49. ONDANSETRON [Suspect]
     Active Substance: ONDANSETRON
     Dosage: 40MG, TID, DOSAGE FORM - NOT SPECIFIED
     Route: 042
  50. ONDANSETRON [Suspect]
     Active Substance: ONDANSETRON
     Dosage: 24 MG, ONCE EVERY 8 HOURS, DOSAGE FORM - NOT SPECIFIED
     Route: 065
  51. ONDANSETRON [Suspect]
     Active Substance: ONDANSETRON
     Dosage: 12 MG, 1 EVERY 8 HOURS, DOSAGE FORM - NOT SPECIFIED
     Route: 042
  52. ONDANSETRON [Suspect]
     Active Substance: ONDANSETRON
     Dosage: 12 MG, 1 EVERY 3 DAYS, DOSAGE FORM - NOT SPECIFIED
     Route: 042
  53. ONDANSETRON [Suspect]
     Active Substance: ONDANSETRON
     Dosage: 4 MG, QD, DOSAGE FORM - NOT SPECIFIEDUNK
     Route: 042
  54. ACETAMINOPHEN [Suspect]
     Active Substance: ACETAMINOPHEN
     Indication: Analgesic therapy
     Dosage: 650 MG, QD
     Route: 048
     Dates: start: 20200527
  55. ACETAMINOPHEN [Suspect]
     Active Substance: ACETAMINOPHEN
     Indication: Off label use
     Dosage: 65 MILLIGRAM ONCE DAILY
     Route: 048
  56. ACETAMINOPHEN [Suspect]
     Active Substance: ACETAMINOPHEN
     Indication: Product used for unknown indication
     Dosage: 650 GRAMS, QD, DOSAGE FORM - NOT SPECIFIED
     Route: 048
  57. ACETAMINOPHEN [Suspect]
     Active Substance: ACETAMINOPHEN
     Dosage: AT AN UNSPECIFIED DOSE AND FREQUENCY, DOSAGE FORM: NOT SPECIFIED
     Route: 065
  58. DIETARY SUPPLEMENT\HERBALS\MINERALS\VITAMINS [Suspect]
     Active Substance: DIETARY SUPPLEMENT\HERBALS\MINERALS\VITAMINS
     Indication: Product used for unknown indication
     Dosage: 17 GRAMS, QD
     Route: 048
  59. DIETARY SUPPLEMENT\HERBALS\MINERALS\VITAMINS [Suspect]
     Active Substance: DIETARY SUPPLEMENT\HERBALS\MINERALS\VITAMINS
     Indication: Constipation
  60. ALLOPURINOL [Suspect]
     Active Substance: ALLOPURINOL
     Indication: Blood uric acid increased
     Dosage: MORNING, 100 MG, QD
     Route: 048
     Dates: start: 20200527
  61. ALLOPURINOL [Suspect]
     Active Substance: ALLOPURINOL
     Indication: Intentional product misuse
     Dosage: 1 DF, QD
     Route: 048
  62. ALLOPURINOL [Suspect]
     Active Substance: ALLOPURINOL
     Indication: Off label use
     Dosage: 100 MILLIGRAM ONCE DAILY
     Route: 048
  63. ALLOPURINOL [Suspect]
     Active Substance: ALLOPURINOL
     Indication: Product used for unknown indication
     Dosage: 100 MILLIGRAM (MG)
     Route: 048
  64. ALLOPURINOL [Suspect]
     Active Substance: ALLOPURINOL
     Dosage: 1 DOSAGE FORM
     Route: 048
  65. ALUMINUM HYDROXIDE\DIMETHICONE\MAGNESIUM HYDROXIDE [Suspect]
     Active Substance: ALUMINUM HYDROXIDE\DIMETHICONE\MAGNESIUM HYDROXIDE
     Indication: Constipation
     Dosage: 133 MILLILITRES
     Route: 054
  66. ALLANTOIN [Suspect]
     Active Substance: ALLANTOIN
     Indication: Constipation
     Dosage: UNK
     Route: 048
  67. ALLANTOIN [Suspect]
     Active Substance: ALLANTOIN
     Indication: Intentional product misuse
  68. ALLANTOIN [Suspect]
     Active Substance: ALLANTOIN
     Indication: Off label use
  69. ALLANTOIN [Suspect]
     Active Substance: ALLANTOIN
     Indication: Product used for unknown indication
  70. ALOE VERA LEAF [Suspect]
     Active Substance: ALOE VERA LEAF
     Indication: Constipation
     Dosage: UNK
     Route: 065
  71. ALUMINUM HYDROXIDE\MAGNESIUM HYDROXIDE [Suspect]
     Active Substance: ALUMINUM HYDROXIDE\MAGNESIUM HYDROXIDE
     Indication: Constipation
     Route: 054
  72. AMINOBENZOIC ACID [Suspect]
     Active Substance: AMINOBENZOIC ACID
     Indication: Product used for unknown indication
     Dosage: 12.5 MILLIGRAMS
     Route: 065
  73. AMIODARONE [Suspect]
     Active Substance: AMIODARONE
     Indication: Ventricular fibrillation
     Dosage: 150 MILLIGRAMS (1 EVERY 1 DAYS), DOSAGE FORM: NOT SPECIFIED
     Route: 042
  74. AMIODARONE [Suspect]
     Active Substance: AMIODARONE
     Indication: Drug therapy
     Dosage: 1 EVERY 1 DAYS, DOSAGE FORM: NOT SPECIFIED
     Route: 042
  75. AMIODARONE [Suspect]
     Active Substance: AMIODARONE
     Indication: Product used for unknown indication
  76. AMIODARONE [Suspect]
     Active Substance: AMIODARONE
     Indication: Off label use
  77. AMIODARONE [Suspect]
     Active Substance: AMIODARONE
     Indication: Intentional product misuse
  78. AMIODARONE HYDROCHLORIDE [Suspect]
     Active Substance: AMIODARONE HYDROCHLORIDE
     Indication: Ventricular fibrillation
     Dosage: 150 MG, QD
     Route: 042
     Dates: start: 20200602, end: 20200602
  79. AMIODARONE HYDROCHLORIDE [Suspect]
     Active Substance: AMIODARONE HYDROCHLORIDE
     Indication: Drug therapy
     Dosage: CONTINUOUS, 27.78 ML/H
     Route: 042
     Dates: start: 20200603
  80. AMIODARONE HYDROCHLORIDE [Suspect]
     Active Substance: AMIODARONE HYDROCHLORIDE
     Indication: Intentional product misuse
     Dosage: 150 MG, QD, , DOSAGE FORM - LIQUID INTRAVENOUS
     Route: 042
  81. AMIODARONE HYDROCHLORIDE [Suspect]
     Active Substance: AMIODARONE HYDROCHLORIDE
     Indication: Product used for unknown indication
     Dosage: ONCE DAILY, DOSAGE FORM - LIQUID INTRAVENOUS
     Route: 042
  82. AMIODARONE HYDROCHLORIDE [Suspect]
     Active Substance: AMIODARONE HYDROCHLORIDE
     Indication: Off label use
  83. AMMONIUM CHLORIDE [Suspect]
     Active Substance: AMMONIUM CHLORIDE
     Indication: Thrombosis
     Dosage: 2.5 ML, AS NEEDED
     Route: 048
  84. AMMONIUM CHLORIDE [Suspect]
     Active Substance: AMMONIUM CHLORIDE
     Dosage: 2.5 ML, QD
     Route: 065
  85. ARANESP [Suspect]
     Active Substance: DARBEPOETIN ALFA
     Indication: Anaemia
     Dosage: 10 UG, EVERY 2 WEEKS
     Route: 042
     Dates: start: 20200528
  86. ARANESP [Suspect]
     Active Substance: DARBEPOETIN ALFA
     Indication: Product used for unknown indication
     Dosage: 0.714 UG, QOW (SOLUTION INTRAVENOUS)
     Route: 042
  87. ARANESP [Suspect]
     Active Substance: DARBEPOETIN ALFA
     Dosage: 10 MG, Q2WEEKS, DOSAGE FORM: SOLUTION INTRAVENOUS
     Route: 042
  88. ARANESP [Suspect]
     Active Substance: DARBEPOETIN ALFA
     Dosage: 1.42 MILLIGRAMS, (1 EVERY 1 WEEKS)
     Route: 042
  89. ARANESP [Suspect]
     Active Substance: DARBEPOETIN ALFA
     Dosage: 20 MILLIGRAMS, QD, DOSAGE FORM: SOLUTION INTRAVENOUS
     Route: 042
  90. ARANESP [Suspect]
     Active Substance: DARBEPOETIN ALFA
     Dosage: 0.71 MICROGRAMS, QD, DOSAGE FORM: SOLUTION INTRAVENOUS
     Route: 042
  91. ARANESP [Suspect]
     Active Substance: DARBEPOETIN ALFA
     Dosage: 1.42 MICROGRAMS, (1 EVERY 1 WEEKS), DOSAGE FORM - SOLUTION INTRAVENOUS
     Route: 042
  92. ARANESP [Suspect]
     Active Substance: DARBEPOETIN ALFA
     Dosage: 10 MG, DOSAGE FORM: SOLUTION INTRAVENOUS
     Route: 042
  93. ARANESP [Suspect]
     Active Substance: DARBEPOETIN ALFA
     Dosage: 10 UG, CYCLICAL, DOSAGE FORM: SOLUTION INTRAVENOUS
     Route: 042
  94. ARANESP [Suspect]
     Active Substance: DARBEPOETIN ALFA
     Dosage: 0.2 UG, ONCE IN EVERY WEEK, DOSAGE FORM - SOLUTION INTRAVENOUS
     Route: 065
  95. ARANESP [Suspect]
     Active Substance: DARBEPOETIN ALFA
     Dosage: DOSAGE FORM - SOLUTION INTRAVENOUS
     Route: 017
  96. ARANESP [Suspect]
     Active Substance: DARBEPOETIN ALFA
     Dosage: 10 MG, ONCE EVERY WEEK, DOSAGE FORM: SOLUTION INTRAVENOUS
     Route: 042
  97. ARANESP [Suspect]
     Active Substance: DARBEPOETIN ALFA
     Dosage: 0.71 UG, ONCE EVERY WEEK, DOSAGE FORM: SOLUTION INTRAVENOUS
     Route: 042
  98. ARANESP [Suspect]
     Active Substance: DARBEPOETIN ALFA
     Dosage: 0.71 UG, ONCE EVERY  TWO WEEKS, DOSAGE FORM - SOLUTION INTRAVENOUS
     Route: 042
  99. ARANESP [Suspect]
     Active Substance: DARBEPOETIN ALFA
     Dosage: DOSAGE FORM - SOLUTION INTRAVENOUS
     Route: 065
  100. ASCORBIC ACID [Suspect]
     Active Substance: ASCORBIC ACID
     Indication: Vitamin supplementation
     Dosage: 17 GRAMS, QD, DOSAGE FORM - NOT SPECIFIED
     Route: 048
  101. ASCORBIC ACID [Suspect]
     Active Substance: ASCORBIC ACID
     Indication: Product used for unknown indication
  102. ASCORBIC ACID [Suspect]
     Active Substance: ASCORBIC ACID
     Indication: Constipation
  103. ASCORBIC ACID\POLYETHYLENE GLYCOL 4000\POTASSIUM CL\SOD ASCORBATE\SOD [Suspect]
     Active Substance: ASCORBIC ACID\POLYETHYLENE GLYCOL 4000\POTASSIUM CL\SOD ASCORBATE\SOD CL\SOD SULFATE
     Indication: Constipation
     Dosage: QD, DOSAGE FORM - POWDER FOR SOLUTION
     Route: 065
  104. ASCORBIC ACID\POLYETHYLENE GLYCOL 4000\POTASSIUM CL\SOD ASCORBATE\SOD [Suspect]
     Active Substance: ASCORBIC ACID\POLYETHYLENE GLYCOL 4000\POTASSIUM CL\SOD ASCORBATE\SOD CL\SOD SULFATE
     Dosage: 17 MG, QD, DOSAGE FORM - POWDER FOR SOLUTION
     Route: 048
  105. ASCORBIC ACID\POLYETHYLENE GLYCOL 4000\POTASSIUM CL\SOD ASCORBATE\SOD [Suspect]
     Active Substance: ASCORBIC ACID\POLYETHYLENE GLYCOL 4000\POTASSIUM CL\SOD ASCORBATE\SOD CL\SOD SULFATE
     Dosage: 1 DF, ONCE EVERY 5 HOURS, DOSAGE FORM - POWDER FOR SOLUTION
     Route: 065
  106. ASCORBIC ACID\POLYETHYLENE GLYCOL 4000\POTASSIUM CL\SOD ASCORBATE\SOD [Suspect]
     Active Substance: ASCORBIC ACID\POLYETHYLENE GLYCOL 4000\POTASSIUM CL\SOD ASCORBATE\SOD CL\SOD SULFATE
     Dosage: 2.5 ML, DOSAGE FORM - POWDER FOR SOLUTION
     Route: 042
  107. ASCORBIC ACID\POLYETHYLENE GLYCOL 4000\POTASSIUM CL\SOD ASCORBATE\SOD [Suspect]
     Active Substance: ASCORBIC ACID\POLYETHYLENE GLYCOL 4000\POTASSIUM CL\SOD ASCORBATE\SOD CL\SOD SULFATE
     Dosage: 17 GM, QD, DOSAGE FORM - POWDER FOR SOLUTION
     Route: 048
  108. ASCORBIC ACID\POLYETHYLENE GLYCOL 4000\POTASSIUM CL\SOD ASCORBATE\SOD [Suspect]
     Active Substance: ASCORBIC ACID\POLYETHYLENE GLYCOL 4000\POTASSIUM CL\SOD ASCORBATE\SOD CL\SOD SULFATE
     Dosage: 3 MG, 1 EVERY 1 WEKS, DOSAGE FORM - POWDER FOR SOLUTION
     Route: 048
  109. ATROVENT [Suspect]
     Active Substance: IPRATROPIUM BROMIDE
     Indication: Dyspnoea
     Dosage: 1 DOSAGE FORM (1 EVERY 6 HOURS), DOSAGE FORM: NOT SPECIFIED
  110. ATROVENT [Suspect]
     Active Substance: IPRATROPIUM BROMIDE
     Indication: Sleep disorder therapy
     Dosage: ONCE EVERY 6 HOURS, DOSAGE FORM - NOT SPECIFIED
     Route: 050
  111. ATROVENT [Suspect]
     Active Substance: IPRATROPIUM BROMIDE
     Indication: Somnolence
     Dosage: ONCE EVERY 8 HOURS, DOSAGE FORM - NOT SPECIFIED
     Route: 050
  112. ATROVENT [Suspect]
     Active Substance: IPRATROPIUM BROMIDE
     Indication: Product used for unknown indication
     Dosage: FOUR TIMES A DAY, DOSAGE FORM - NOT SPECIFIED
     Route: 065
  113. ATROVENT [Suspect]
     Active Substance: IPRATROPIUM BROMIDE
     Indication: Off label use
     Dosage: 1 DF, ONCE EVERY 8 HOURS, DOSAGE FORM - NOT SPECIFIED
     Route: 050
  114. ATROVENT [Suspect]
     Active Substance: IPRATROPIUM BROMIDE
     Dosage: 1 DF, ONCE EVERY 6 HOURS, DOSAGE FORM - NOT SPECIFIED
     Route: 050
  115. ATROVENT [Suspect]
     Active Substance: IPRATROPIUM BROMIDE
     Dosage: QD, DOSAGE FORM - NOT SPECIFIED
     Route: 050
  116. ATROVENT [Suspect]
     Active Substance: IPRATROPIUM BROMIDE
     Dosage: 1.O UNKNOWN, ONCE EVERY 4 DAYS, DOSAGE FORM - NOT SPECIFIED
  117. ATROVENT [Suspect]
     Active Substance: IPRATROPIUM BROMIDE
     Dosage: 1 DF, QD, DOSAGE FORM - NOT SPECIFIED
     Route: 065
  118. ATROVENT [Suspect]
     Active Substance: IPRATROPIUM BROMIDE
     Dosage: ONCE EVERY 4 DAYS, DOSAGE FORM - NOT SPECIFIED
     Route: 050
  119. FLUTICASONE FUROATE [Suspect]
     Active Substance: FLUTICASONE FUROATE
     Dosage: DOSAGE FORM - SPRAY, METERED DOSE
     Route: 065
  120. FLUTICASONE FUROATE [Suspect]
     Active Substance: FLUTICASONE FUROATE
     Dosage: DOSAGE FORM - SPRAY, METERED DOSE
     Route: 048
  121. BETAMETHASONE [Suspect]
     Active Substance: BETAMETHASONE
     Indication: Swelling
     Dosage: DOSE: 1 APPLICATION, PRN
     Route: 061
     Dates: start: 20200527
  122. BETAMETHASONE [Suspect]
     Active Substance: BETAMETHASONE
     Indication: Product used for unknown indication
     Dosage: 10 DF, DOSAGE FORM - OINTMENT TOPICAL
     Route: 065
  123. BETAMETHASONE [Suspect]
     Active Substance: BETAMETHASONE
     Indication: Off label use
     Dosage: 1 DF, DOSAGE FORM - OINTMENT TOPICAL
     Route: 061
  124. BETAMETHASONE [Suspect]
     Active Substance: BETAMETHASONE
     Dosage: 10 MILLIGRAM, DOSAGE FORM - OINTMENT TOPICAL
     Route: 061
  125. BETAMETHASONE [Suspect]
     Active Substance: BETAMETHASONE
     Dosage: DOSAGE FORM - OINTMENT TOPICAL
     Route: 065
  126. BETAMETHASONE [Suspect]
     Active Substance: BETAMETHASONE
     Dosage: 1 DF, DOSAGE FORM - OINTMENT TOPICAL
     Route: 065
  127. BETAMETHASONE [Suspect]
     Active Substance: BETAMETHASONE
     Dosage: QD, DOSAGE FORM - OINTMENT TOPICAL
     Route: 061
  128. BIOTIN [Suspect]
     Active Substance: BIOTIN
     Indication: Product used for unknown indication
     Route: 065
  129. BISACODYL [Suspect]
     Active Substance: BISACODYL
     Indication: Constipation
     Dosage: 10 MILLIGRAMS, QD, DOSAGE FORM: NOT SPECIFIED
     Route: 054
  130. BISACODYL [Suspect]
     Active Substance: BISACODYL
     Indication: Ventricular fibrillation
     Dosage: 10 MILLIGRAMS, QD, DOSAGE FORM - NOT SPECIFIED
     Route: 042
  131. BISACODYL [Suspect]
     Active Substance: BISACODYL
     Indication: Dyspnoea
     Dosage: 10 MILLIGRAMS, DOSAGE FORM - NOT SPECIFIED
     Route: 065
  132. BISACODYL [Suspect]
     Active Substance: BISACODYL
     Indication: Off label use
     Dosage: 10 MILLIGRAMS, DOSAGE FORM - NOT SPECIFIED
     Route: 054
  133. BISACODYL [Suspect]
     Active Substance: BISACODYL
     Indication: Product used for unknown indication
  134. BISACODYL [Suspect]
     Active Substance: BISACODYL
     Indication: Drug therapy
  135. CALCITRIOL [Suspect]
     Active Substance: CALCITRIOL
     Indication: Vitamin D
     Dosage: 0.25 MICROGRAMS (1 EVERY 1 DAYS), DOSAGE FORM: NOT SPECIFIED
     Route: 048
     Dates: start: 20200528
  136. CALCITRIOL [Suspect]
     Active Substance: CALCITRIOL
     Indication: Product used for unknown indication
     Dosage: 500 MILLIGRAMS, ONCE EVERY 8 HOURS, DOSAGE FORM: NOT SPECIFIED
     Route: 048
  137. CALCITRIOL [Suspect]
     Active Substance: CALCITRIOL
     Indication: Hypovitaminosis
  138. BETA CAROTENE [Suspect]
     Active Substance: BETA CAROTENE
     Indication: Product used for unknown indication
     Dosage: DOSAGE FORM: NOT SPECIFIED
     Route: 065
  139. CHLORAMPHENICOL [Suspect]
     Active Substance: CHLORAMPHENICOL
     Indication: Bacterial infection
     Dosage: 1500 MG, DOSAGE FORM - NOT SPECIFIED
     Route: 065
  140. CHLORAMPHENICOL [Suspect]
     Active Substance: CHLORAMPHENICOL
     Indication: Product used for unknown indication
     Dosage: UNK
     Route: 065
  141. DIPYRONE [Suspect]
     Active Substance: DIPYRONE
     Indication: Product used for unknown indication
     Dosage: DOSAGE FORM: SOLUTION INTRAMUSCULAR
     Route: 030
  142. DIPYRONE [Suspect]
     Active Substance: DIPYRONE
     Dosage: 5 MILLIGRAMS, QD, DOSAGE FORM: SOLUTION INTRAMUSCULAR
     Route: 042
  143. DISTIGMINE BROMIDE [Suspect]
     Active Substance: DISTIGMINE BROMIDE
     Indication: Dyspnoea
     Dosage: 1 INTERNATIONAL UNIT, QD
     Route: 048
  144. DISTIGMINE BROMIDE [Suspect]
     Active Substance: DISTIGMINE BROMIDE
     Indication: Product used for unknown indication
  145. DOBUTAMINE HYDROCHLORIDE [Suspect]
     Active Substance: DOBUTAMINE HYDROCHLORIDE
     Indication: Cardiogenic shock
     Dosage: CONTINOUS, 2.07 ML/H, DOSAGE FORM - SOLUTION INTRAVENOUS
     Route: 042
     Dates: start: 20200601
  146. DOBUTAMINE HYDROCHLORIDE [Suspect]
     Active Substance: DOBUTAMINE HYDROCHLORIDE
     Dosage: 3.11 MILLILITRE PER HOUR,CONTINUOUS
     Route: 042
     Dates: start: 20200602
  147. DOCUSATE SODIUM [Suspect]
     Active Substance: DOCUSATE SODIUM
     Indication: Product used for unknown indication
     Dosage: DOSAGE FORM: NOT SPECIFIED
     Route: 065
  148. FLUTICASONE [Suspect]
     Active Substance: FLUTICASONE
     Indication: Product used for unknown indication
     Route: 065
  149. FRAGMIN [Suspect]
     Active Substance: DALTEPARIN SODIUM
     Indication: Pulmonary embolism
     Dosage: 2.5 ML, PRN, DOSAGE FORM: SOLUTION INTRAVENOUS
     Route: 065
  150. FRAGMIN [Suspect]
     Active Substance: DALTEPARIN SODIUM
     Indication: Thrombosis
     Dosage: 12.5 MILLIGRAMS, DOSAGE FORM: SOLUTION INTRAVENOUS
     Route: 048
  151. FRAGMIN [Suspect]
     Active Substance: DALTEPARIN SODIUM
     Indication: Product used for unknown indication
  152. GABAPENTIN [Suspect]
     Active Substance: GABAPENTIN
     Indication: Neuralgia
     Dosage: AT BED TIME 100 MG, QD, EVERY 2 H
     Route: 048
     Dates: start: 20200527
  153. GABAPENTIN [Suspect]
     Active Substance: GABAPENTIN
     Indication: Intentional product misuse
     Dosage: 100 MG, QD, DOSAGE FORM: NOT SPECIFIED
     Route: 048
  154. GABAPENTIN [Suspect]
     Active Substance: GABAPENTIN
     Indication: Product used for unknown indication
  155. GABAPENTIN [Suspect]
     Active Substance: GABAPENTIN
     Indication: Off label use
  156. GABAPENTIN [Suspect]
     Active Substance: GABAPENTIN
     Indication: Bacterial infection
  157. HERBALS\PAULLINIA CUPANA SEED [Suspect]
     Active Substance: HERBALS\PAULLINIA CUPANA SEED
     Indication: Product used for unknown indication
     Dosage: 17 MG, DOSAGE FORM: NOT SPECIFIED
     Route: 042
  158. HERBALS\PAULLINIA CUPANA SEED [Suspect]
     Active Substance: HERBALS\PAULLINIA CUPANA SEED
     Indication: Nutritional supplementation
     Dosage: 12.5 MG, DOSAGE FORM: NOT SPECIFIED
     Route: 042
  159. HORSE CHESTNUT [Suspect]
     Active Substance: HORSE CHESTNUT
     Indication: Product used for unknown indication
     Dosage: DOSAGE FORM: NOT SPECIFIED
     Route: 065
  160. HYDROMORPHONE [Suspect]
     Active Substance: HYDROMORPHONE
     Indication: Analgesic therapy
     Dosage: 4 MILLIGRAM S(1 EVERY 1 DAYS)
     Route: 058
  161. HYDROMORPHONE [Suspect]
     Active Substance: HYDROMORPHONE
     Indication: Product used for unknown indication
     Dosage: 6 MG (1 EVERY 6 HOURS)
     Route: 058
  162. HYDROMORPHONE [Suspect]
     Active Substance: HYDROMORPHONE
     Indication: Off label use
     Dosage: 24 MG (1 EVERY 1 DAYS)
     Route: 065
  163. HYDROMORPHONE [Suspect]
     Active Substance: HYDROMORPHONE
     Indication: Intentional product misuse
     Dosage: 1 MILLIGRAM (1 EVERY 4 HOURS)
     Route: 058
  164. HYDROMORPHONE [Suspect]
     Active Substance: HYDROMORPHONE
     Dosage: 4 MILLIGRAM (1 EVERY 4 HOURS)
     Route: 058
  165. HYDROMORPHONE [Suspect]
     Active Substance: HYDROMORPHONE
     Dosage: 6 MILLIGRAM (1 EVERY 4 HOURS)
     Route: 058
  166. HYDROMORPHONE [Suspect]
     Active Substance: HYDROMORPHONE
     Dosage: 6 MILLIGRAM (6 EVERY 1 DAYS)
     Route: 058
  167. HYDROMORPHONE [Suspect]
     Active Substance: HYDROMORPHONE
     Dosage: 6 MILLIGRAM (1 EVERY 4 DAYS)
     Route: 058
  168. HYDROMORPHONE [Suspect]
     Active Substance: HYDROMORPHONE
     Dosage: 1 MILLIGRAM (1 EVERY 4 DAYS)
     Route: 058
  169. HYDROMORPHONE [Suspect]
     Active Substance: HYDROMORPHONE
     Dosage: 24 MILLIGRAM (1 EVERY 4 HOURS)
     Route: 058
  170. HYDROMORPHONE [Suspect]
     Active Substance: HYDROMORPHONE
     Dosage: 6 MILLIGRAM (1 EVERY 6 HOURS)
     Route: 058
  171. HYDROMORPHONE [Suspect]
     Active Substance: HYDROMORPHONE
     Dosage: 24 MILLIGRAM (1 EVERY 6 HOURS)
     Route: 058
  172. HYDROMORPHONE [Suspect]
     Active Substance: HYDROMORPHONE
     Dosage: 24 MILLIGRAM (4 EVERY 1 DAYS)
     Route: 065
  173. IPRATROPIUM [Suspect]
     Active Substance: IPRATROPIUM
     Indication: Dyspnoea
     Dosage: UNK
     Route: 006
  174. IPRATROPIUM [Suspect]
     Active Substance: IPRATROPIUM
     Indication: Sleep disorder therapy
     Dosage: 1 DF, 4 EVERY 1 DAYS, DOSAGE FORM - NOT SPECIFIED
     Route: 065
  175. IPRATROPIUM [Suspect]
     Active Substance: IPRATROPIUM
     Indication: Intentional product misuse
     Dosage: 1 DF, QD , DOSAGE FORM - NOT SPECIFIED
     Route: 065
  176. LANSOPRAZOLE [Suspect]
     Active Substance: LANSOPRAZOLE
     Indication: Antacid therapy
     Dosage: 30 MILLIGRAMS (MG) 1 EVERY 1 DAY, DOSAGE FORM: CAPSULE DELAYED RELEASE
     Route: 048
  177. LANSOPRAZOLE [Suspect]
     Active Substance: LANSOPRAZOLE
     Indication: Product used for unknown indication
  178. LANSOPRAZOLE [Suspect]
     Active Substance: LANSOPRAZOLE
     Indication: Off label use
  179. LANSOPRAZOLE [Suspect]
     Active Substance: LANSOPRAZOLE
     Indication: Intentional product misuse
  180. LANTHANUM CARBONATE [Suspect]
     Active Substance: LANTHANUM CARBONATE
     Indication: Blood phosphorus increased
     Dosage: AS DIRECTED 500 MG, PRN, QD
     Route: 048
     Dates: start: 20200527
  181. LANTHANUM CARBONATE [Suspect]
     Active Substance: LANTHANUM CARBONATE
     Indication: Hyperphosphataemia
     Dosage: 500 MG
     Route: 048
  182. LANTHANUM CARBONATE [Suspect]
     Active Substance: LANTHANUM CARBONATE
     Indication: Product used for unknown indication
  183. LANTHANUM CARBONATE [Suspect]
     Active Substance: LANTHANUM CARBONATE
     Indication: Off label use
  184. LANTHANUM CARBONATE [Suspect]
     Active Substance: LANTHANUM CARBONATE
     Indication: Intentional product misuse
  185. POLYETHYLENE GLYCOL 3350 [Suspect]
     Active Substance: POLYETHYLENE GLYCOL 3350
     Indication: Constipation
     Dosage: 17 GRAMS (1 EVERY 1 DAYS), DOSAGE FORM - NOT SPECIFIED
     Route: 048
  186. POLYETHYLENE GLYCOL 3350 [Suspect]
     Active Substance: POLYETHYLENE GLYCOL 3350
     Indication: Product used for unknown indication
     Dosage: 3 MG, ONCE EVERY WEEK, DOSAGE FORM - NOT SPECIFIEDUNK
     Route: 048
  187. POLYETHYLENE GLYCOL 3350 [Suspect]
     Active Substance: POLYETHYLENE GLYCOL 3350
     Indication: Off label use
     Dosage: 17 MILLIGRAMS (1 EVERY 1 DAYS), DOSAGE FORM - NOT SPECIFIED
     Route: 048
  188. MELATONIN [Suspect]
     Active Substance: MELATONIN
     Indication: Sleep disorder therapy
     Dosage: AT BED TIME 3 MG, QD
     Route: 048
     Dates: start: 20200527
  189. MELATONIN [Suspect]
     Active Substance: MELATONIN
     Indication: Product used for unknown indication
     Dosage: 3 MG, QD, DOSAGE FORM: NOT SPECIFIED
     Route: 048
  190. MELATONIN [Suspect]
     Active Substance: MELATONIN
     Indication: Off label use
  191. MELATONIN [Suspect]
     Active Substance: MELATONIN
     Indication: Intentional product misuse
  192. METRONIDAZOLE [Suspect]
     Active Substance: METRONIDAZOLE
     Indication: Bacterial infection
     Dosage: 500 MG, Q8H, DOSAGE FORM: NOT SPECIFIED
     Route: 048
     Dates: start: 20200530
  193. METRONIDAZOLE [Suspect]
     Active Substance: METRONIDAZOLE
     Indication: Off label use
     Dosage: 550 MG, Q8H, DOSAGE FORM: NOT SPECIFIED
     Route: 048
     Dates: start: 20200530
  194. METRONIDAZOLE [Suspect]
     Active Substance: METRONIDAZOLE
     Indication: Product used for unknown indication
     Dosage: 500 MG, QD, DOSAGE FORM: NOT SPECIFIED
     Route: 048
     Dates: start: 20200530
  195. METRONIDAZOLE [Suspect]
     Active Substance: METRONIDAZOLE
     Dosage: 500 MG, TID, DOSAGE FORM: NOT SPECIFIED
     Route: 048
     Dates: start: 20200530
  196. METRONIDAZOLE [Suspect]
     Active Substance: METRONIDAZOLE
     Dosage: 1500 MG, QD, DOSAGE FORM: NOT SPECIFIED
     Route: 048
     Dates: start: 20200530
  197. NOREPINEPHRINE [Suspect]
     Active Substance: NOREPINEPHRINE
     Indication: Stress
     Dosage: CONTINUOUS TITRATION
     Route: 042
     Dates: start: 20200601
  198. NOREPINEPHRINE [Suspect]
     Active Substance: NOREPINEPHRINE
     Indication: Off label use
     Dosage: 1 DF, QD, DOSAGE FORM - NOT SPECIFIED
     Route: 048
  199. NOREPINEPHRINE [Suspect]
     Active Substance: NOREPINEPHRINE
     Indication: Product used for unknown indication
     Dosage: 1 DF, QD, DOSAGE FORM - NOT SPECIFIED
     Route: 065
  200. NOREPINEPHRINE [Suspect]
     Active Substance: NOREPINEPHRINE
     Indication: Intentional product misuse
     Dosage: 3 MG, QD, DOSAGE FORM - NOT SPECIFIED
     Route: 048
  201. NOREPINEPHRINE [Suspect]
     Active Substance: NOREPINEPHRINE
     Dosage: ONCE, DOSAGE FORM - NOT SPECIFIED
     Route: 042
  202. NOVORAPID [Suspect]
     Active Substance: INSULIN ASPART
     Indication: Diabetes mellitus
     Dosage: DOSAGE FORM: SOLUTION SUBCUTANEOUS
     Route: 058
  203. NOVORAPID [Suspect]
     Active Substance: INSULIN ASPART
     Indication: Product used for unknown indication
     Dosage: DOSAGE FORM - NOT SPECIFIED
     Route: 058
  204. NOVORAPID [Suspect]
     Active Substance: INSULIN ASPART
     Indication: Off label use
     Dosage: DOSAGE FORM - NOT SPECIFIED
     Route: 048
  205. OSELTAMIVIR [Suspect]
     Active Substance: OSELTAMIVIR
     Indication: Product used for unknown indication
     Route: 065
  206. PHYTONADIONE [Suspect]
     Active Substance: PHYTONADIONE
     Indication: Vitamin supplementation
     Dosage: WHEN NEEDED 5 MG, DOSAGE FORM: NOT SPECIFIED
     Route: 042
     Dates: start: 20200602
  207. PHYTONADIONE [Suspect]
     Active Substance: PHYTONADIONE
     Indication: Off label use
     Dosage: 5 MG, QD, DOSAGE FORM - NOT SPECIFIED
     Route: 017
  208. PHYTONADIONE [Suspect]
     Active Substance: PHYTONADIONE
     Dosage: 5 MG, DOSAGE FORM - NOT SPECIFIED
     Route: 017
  209. POLYETHYLENE GLYCOL [Suspect]
     Active Substance: POLYETHYLENE GLYCOL
     Indication: Constipation
     Dosage: EVERY EVENING 17 G, QD, DOSAGE FORM: NOT SPECIFIED
     Route: 048
     Dates: start: 20200601
  210. POLYETHYLENE GLYCOL [Suspect]
     Active Substance: POLYETHYLENE GLYCOL
     Dosage: 17 GRAM,QD
     Route: 048
     Dates: start: 20200602
  211. POLYETHYLENE GLYCOL [Suspect]
     Active Substance: POLYETHYLENE GLYCOL
     Dosage: 17 MILLIGRAMS (1 EVERY 1 DAYS)
     Route: 048
  212. PROPYLENE GLYCOL [Suspect]
     Active Substance: PROPYLENE GLYCOL
     Indication: Product used for unknown indication
     Dosage: DOSAGE FORM: NOT SPECIFIED
     Route: 065
  213. RIBOFLAVIN [Suspect]
     Active Substance: RIBOFLAVIN
     Indication: Product used for unknown indication
     Dosage: DOSAGE FORM: NOT SPECIFIED
     Route: 065
  214. ALBUTEROL [Suspect]
     Active Substance: ALBUTEROL
     Indication: Chronic obstructive pulmonary disease
     Dosage: DOSAGE FORM: NOT SPECIFIED
     Route: 006
  215. ALBUTEROL [Suspect]
     Active Substance: ALBUTEROL
     Dosage: QD, DOSAGE FORM: NOT SPECIFIED
     Route: 050
  216. ALBUTEROL [Suspect]
     Active Substance: ALBUTEROL
     Dosage: 4 DF, QD, DOSAGE FORM: NOT SPECIFIED
     Route: 065
  217. ALBUTEROL [Suspect]
     Active Substance: ALBUTEROL
     Dosage: 1 DF,, 1 EVERY 6 HOURS, DOSAGE FORM - NOT SPECIFIED
     Route: 065
  218. SIMVASTATIN [Suspect]
     Active Substance: SIMVASTATIN
     Indication: Blood cholesterol increased
     Dosage: AT BED TIME 40 MG, QD
     Route: 048
     Dates: start: 20200527
  219. SIMVASTATIN [Suspect]
     Active Substance: SIMVASTATIN
     Indication: Vitamin supplementation
     Dosage: 40 MG, QD
     Route: 048
  220. SIMVASTATIN [Suspect]
     Active Substance: SIMVASTATIN
     Indication: Product used for unknown indication
  221. SIMVASTATIN [Suspect]
     Active Substance: SIMVASTATIN
     Indication: Off label use
  222. SODIUM CITRATE [Suspect]
     Active Substance: SODIUM CITRATE
     Indication: Thrombosis
     Dosage: 2.5 ML, PRN, (4GM/100ML SOLUTION UNASSIGNED), DOSAGE FORM - NOT SPECIFIED
     Route: 065
  223. SODIUM CITRATE [Suspect]
     Active Substance: SODIUM CITRATE
     Indication: Anticoagulant therapy
     Dosage: 2.5 ML, QD, DOSAGE FORM - NOT SPECIFIED
     Route: 065
  224. SODIUM CITRATE [Suspect]
     Active Substance: SODIUM CITRATE
     Dosage: 2.5 MG, QD, DOSAGE FORM - NOT SPECIFIED
     Route: 065
  225. SODIUM FERRIC GLUCONATE COMPLEX [Suspect]
     Active Substance: SODIUM FERRIC GLUCONATE COMPLEX
     Indication: Iron deficiency
     Dosage: 4.64 MG, (1 EVERY 4 WEEKS)
     Route: 042
  226. SODIUM FERRIC GLUCONATE COMPLEX [Suspect]
     Active Substance: SODIUM FERRIC GLUCONATE COMPLEX
     Dosage: 125 MG, (1 EVERY 4 WEEKS)
     Route: 042
  227. SODIUM FERRIC GLUCONATE COMPLEX [Suspect]
     Active Substance: SODIUM FERRIC GLUCONATE COMPLEX
     Dosage: 12.5 MG
     Route: 042
  228. SODIUM FERRIC GLUCONATE COMPLEX [Suspect]
     Active Substance: SODIUM FERRIC GLUCONATE COMPLEX
     Dosage: 17.85 MG, 1 EVERY 1 WEEK
     Route: 042
  229. SODIUM FERRIC GLUCONATE COMPLEX [Suspect]
     Active Substance: SODIUM FERRIC GLUCONATE COMPLEX
     Dosage: 133 ML
     Route: 042
  230. SODIUM FERRIC GLUCONATE COMPLEX [Suspect]
     Active Substance: SODIUM FERRIC GLUCONATE COMPLEX
     Dosage: 1.25 ML, 1 EVERY 1 WEEK
     Route: 042
  231. SODIUM PHOSPHATE [Suspect]
     Active Substance: SODIUM PHOSPHATE
     Indication: Constipation
     Dosage: 133 ML, DOSAGE FORM - SOLUTION
     Route: 054
  232. SUCROSE [Suspect]
     Active Substance: SUCROSE
     Indication: Iron deficiency
     Dosage: 12 MG, 1 EVERY 1 MONTHS, DOSAGE FORM - NOT SPECIFIED
     Route: 042
  233. SUCROSE [Suspect]
     Active Substance: SUCROSE
     Dosage: 125 MG, 1 EVERY 4 WEEKS, DOSAGE FORM: NOT SPECIFIED
     Route: 065
  234. TRESIBA [Suspect]
     Active Substance: INSULIN DEGLUDEC
     Indication: Diabetes mellitus
     Dosage: 1 DOSAGE FORM
     Route: 058
  235. TRESIBA [Suspect]
     Active Substance: INSULIN DEGLUDEC
     Dosage: 1 DF, QD
     Route: 065
  236. UMECLIDINIUM BROMIDE [Suspect]
     Active Substance: UMECLIDINIUM BROMIDE
     Indication: Dyspnoea
     Dosage: 1 IU, QD
     Route: 048
  237. UMECLIDINIUM BROMIDE [Suspect]
     Active Substance: UMECLIDINIUM BROMIDE
     Indication: Product used for unknown indication
     Dosage: 1 DF
     Route: 048
  238. VASOPRESSIN [Suspect]
     Active Substance: VASOPRESSIN
     Indication: Drug therapy
     Dosage: CONTINUOUS TITRATION
     Route: 042
     Dates: start: 20200602
  239. VASOPRESSIN [Suspect]
     Active Substance: VASOPRESSIN
     Indication: Product used for unknown indication
     Dosage: UNK
     Route: 017
  240. VASOPRESSIN [Suspect]
     Active Substance: VASOPRESSIN
     Dosage: 250 ML, QD
     Route: 042
  241. VASOPRESSIN [Suspect]
     Active Substance: VASOPRESSIN
     Dosage: 50 ML, QD
     Route: 042
  242. VITAMIN B6 [Suspect]
     Active Substance: PYRIDOXINE HYDROCHLORIDE
     Indication: Vitamin supplementation
     Dosage: 4 INTERNATIONAL UNITS 4 TIMES EVERY SIX HOURS, DOSAGE FORM - NOT SPECIFIED
     Route: 048
  243. VITAMIN C [Suspect]
     Active Substance: ASCORBIC ACID
     Indication: Product used for unknown indication
     Route: 065
  244. VITAMIN K1 [Suspect]
     Active Substance: PHYTONADIONE
     Indication: Vitamin supplementation
     Dosage: 5 MG, QD, DOSAGE FORM: NOT SPECIFIED
     Route: 042
  245. WARFARIN POTASSIUM [Suspect]
     Active Substance: WARFARIN POTASSIUM
     Indication: Thrombosis
     Dosage: 2 MILLIGRAMS
     Route: 048
  246. XANTOFYL PALMITATE [Suspect]
     Active Substance: XANTOFYL PALMITATE
     Indication: Product used for unknown indication
     Dosage: 12.5 G
     Route: 042
  247. XANTOFYL PALMITATE [Suspect]
     Active Substance: XANTOFYL PALMITATE
     Indication: Nutritional supplementation
     Dosage: 5 MG, QD
     Route: 042
  248. IPRATROPIUM BROMIDE [Suspect]
     Active Substance: IPRATROPIUM BROMIDE
     Indication: Dyspnoea
     Dosage: DOSE: 4 PUFFS, 4X A DAY
     Dates: start: 20200601
  249. IPRATROPIUM BROMIDE [Suspect]
     Active Substance: IPRATROPIUM BROMIDE
     Indication: Sleep disorder therapy
     Dosage: 4 UNK, QD
  250. IPRATROPIUM BROMIDE [Suspect]
     Active Substance: IPRATROPIUM BROMIDE
     Indication: Intentional product misuse
     Dosage: 4 EVERY 1 DAY, DOSAGE FORM - LIQUID INHALATION
     Route: 065
  251. IPRATROPIUM BROMIDE [Suspect]
     Active Substance: IPRATROPIUM BROMIDE
     Dosage: 1 DF, 1 EVERY 6 HOURS, DOSAGE FORM - LIQUID INHALATION
     Route: 050
  252. IPRATROPIUM BROMIDE [Suspect]
     Active Substance: IPRATROPIUM BROMIDE
     Dosage: 1 DF, 1 EVERY 8 HOURS, DOSAGE FORM - LIQUID INHALATION
     Route: 050
  253. IPRATROPIUM BROMIDE [Suspect]
     Active Substance: IPRATROPIUM BROMIDE
     Dosage: QD, DOSAGE FORM - LIQUID INHALATION
     Route: 050
  254. IPRATROPIUM BROMIDE [Suspect]
     Active Substance: IPRATROPIUM BROMIDE
     Dosage: 4 DF, DOSAGE FORM - LIQUID INHALATION
     Route: 065
  255. FLUTICASONE FUROATE\VILANTEROL TRIFENATATE [Suspect]
     Active Substance: FLUTICASONE FUROATE\VILANTEROL TRIFENATATE
     Indication: Dyspnoea
     Dosage: UNK, PRN
  256. FLUTICASONE FUROATE\VILANTEROL TRIFENATATE [Suspect]
     Active Substance: FLUTICASONE FUROATE\VILANTEROL TRIFENATATE
     Indication: Nutritional supplementation
     Dosage: QD
     Route: 065
  257. FLUTICASONE FUROATE\VILANTEROL TRIFENATATE [Suspect]
     Active Substance: FLUTICASONE FUROATE\VILANTEROL TRIFENATATE
     Indication: Product used for unknown indication
  258. FLUTICASONE FUROATE\VILANTEROL TRIFENATATE [Suspect]
     Active Substance: FLUTICASONE FUROATE\VILANTEROL TRIFENATATE
     Indication: Blood phosphorus increased
  259. INSULIN DEGLUDEC [Suspect]
     Active Substance: INSULIN DEGLUDEC
     Indication: Diabetes mellitus
     Dosage: DOSE: 22 UNITS, AT BEDTIME, ONCE IN A DAY
     Route: 058
     Dates: start: 20200527
  260. UMECLIDINIUM BROMIDE\VILANTEROL TRIFENATATE [Suspect]
     Active Substance: UMECLIDINIUM BROMIDE\VILANTEROL TRIFENATATE
     Indication: Dyspnoea
     Dosage: 1 IU, MORNING, ONCE IN A DAY
     Route: 048
     Dates: start: 20200527
  261. UMECLIDINIUM BROMIDE\VILANTEROL TRIFENATATE [Suspect]
     Active Substance: UMECLIDINIUM BROMIDE\VILANTEROL TRIFENATATE
     Indication: Nutritional supplementation
  262. UMECLIDINIUM BROMIDE\VILANTEROL TRIFENATATE [Suspect]
     Active Substance: UMECLIDINIUM BROMIDE\VILANTEROL TRIFENATATE
     Indication: Product used for unknown indication
  263. UMECLIDINIUM BROMIDE\VILANTEROL TRIFENATATE [Suspect]
     Active Substance: UMECLIDINIUM BROMIDE\VILANTEROL TRIFENATATE
     Indication: Blood phosphorus increased
  264. ALBUTEROL SULFATE [Suspect]
     Active Substance: ALBUTEROL SULFATE
     Indication: Chronic obstructive pulmonary disease
     Dosage: 4 DOSAGE FORMS (1 EVERY 1 DAYS)
     Dates: start: 20200601
  265. ALBUTEROL SULFATE [Suspect]
     Active Substance: ALBUTEROL SULFATE
     Dosage: 1 DOSAGE FORM (1 EVERY 6 HOURS)
  266. WARFARIN [Suspect]
     Active Substance: WARFARIN
     Indication: Thrombosis
     Dosage: AT BED TIME ON ALTERNATE DAYS, 2 MG, PRN
     Route: 048
     Dates: start: 20200527
  267. WARFARIN [Suspect]
     Active Substance: WARFARIN
     Indication: Intentional product misuse
     Dosage: 2 G, QD
     Route: 048
  268. WARFARIN [Suspect]
     Active Substance: WARFARIN
     Indication: Off label use
     Dosage: 2 MILLIGRAM, QD
     Route: 065
  269. WARFARIN [Suspect]
     Active Substance: WARFARIN
     Dosage: 2 ML, QD
     Route: 048
  270. DULCOLAX NOS [Suspect]
     Active Substance: BISACODYL OR DOCUSATE SODIUM
     Indication: Constipation
     Dosage: 10 MILLIGRAMS, QD, DOSAGE FORM - NOT SPECIFIED
     Route: 054
     Dates: start: 20200601
  271. DULCOLAX NOS [Suspect]
     Active Substance: BISACODYL OR DOCUSATE SODIUM
     Indication: Ventricular fibrillation
  272. DULCOLAX NOS [Suspect]
     Active Substance: BISACODYL OR DOCUSATE SODIUM
     Indication: Drug therapy
  273. PREVACID [Suspect]
     Active Substance: LANSOPRAZOLE
     Indication: Antacid therapy
     Dosage: 30 MG, QD (CAPSULE, DELAYED RELEASE)
     Route: 048
     Dates: start: 20200527
  274. PREVACID [Suspect]
     Active Substance: LANSOPRAZOLE
     Indication: Intentional product misuse
     Dosage: 30 MG, QD
     Route: 048
  275. INSULIN ASPART [Suspect]
     Active Substance: INSULIN ASPART
     Indication: Diabetes mellitus
     Dosage: DOSE : 6 UNITS, BEFORE SUPPER, PRN
     Route: 058
     Dates: start: 20200527
  276. SODIUM PICOSULFATE [Suspect]
     Active Substance: SODIUM PICOSULFATE
     Indication: Constipation
     Dosage: 10 MILLIGRAM, PRN, DOSAGE FORM - NOT SPECIFIED
     Route: 054
  277. SODIUM PICOSULFATE [Suspect]
     Active Substance: SODIUM PICOSULFATE
     Indication: Analgesic therapy
     Dosage: 12.5 GM, 1 EVERY 1 MONTHS, DOSAGE FORM - NOT SPECIFIED
     Route: 054
  278. SODIUM PICOSULFATE [Suspect]
     Active Substance: SODIUM PICOSULFATE
     Indication: Product used for unknown indication
     Dosage: 10 MG, QD, DOSAGE FORM - NOT SPECIFIED
     Route: 054
  279. SODIUM PHOSPHATE, MONOBASIC [Suspect]
     Active Substance: SODIUM PHOSPHATE, MONOBASIC
     Indication: Constipation
     Dosage: 133 ML, PRN
     Route: 054
  280. DALTEPARIN SODIUM [Suspect]
     Active Substance: DALTEPARIN SODIUM
     Indication: Pulmonary embolism
     Dosage: UNK, PRN
     Route: 065
     Dates: start: 20200526
  281. PYRIDOXINE HYDROCHLORIDE [Suspect]
     Active Substance: PYRIDOXINE HYDROCHLORIDE
     Indication: Vitamin supplementation
     Dosage: UNK, QID
     Route: 048
  282. DIETARY SUPPLEMENT [Suspect]
     Active Substance: DIETARY SUPPLEMENT
     Indication: Vitamin supplementation
     Dosage: 5 MG, QD, VIA INTRAVENOUS (NOT OTHERWISE SPECIFIED), PRN
     Route: 042
  283. DIETARY SUPPLEMENT [Suspect]
     Active Substance: DIETARY SUPPLEMENT
     Indication: Intentional product misuse
     Dosage: 17 MG, QD
     Route: 042
  284. PYRIDOXINE HYDROCHLORIDE [Suspect]
     Active Substance: PYRIDOXINE HYDROCHLORIDE
     Indication: Vitamin supplementation
     Dosage: DOSE: 1 TAB MORNING. QD
     Route: 048
     Dates: start: 20200527
  285. SODIUM PHOSPHATE, MONOBASIC, ANHYDROUS [Suspect]
     Active Substance: SODIUM PHOSPHATE, MONOBASIC, ANHYDROUS
     Indication: Constipation
     Dosage: AS DIRECTED 133 ML, PRN
     Route: 054
     Dates: start: 20200601
  286. SODIUM PHOSPHATE, MONOBASIC, ANHYDROUS [Suspect]
     Active Substance: SODIUM PHOSPHATE, MONOBASIC, ANHYDROUS
     Dosage: 133 ML, PRN
     Route: 054
  287. FERRLECIT [Suspect]
     Active Substance: SODIUM FERRIC GLUCONATE COMPLEX
     Indication: Iron deficiency
     Dosage: 1.25 G, DIALYSIS 4 WEEKS
     Route: 042
     Dates: start: 20200527
  288. FERRLECIT [Suspect]
     Active Substance: SODIUM FERRIC GLUCONATE COMPLEX
     Dosage: 4.64 MG, Q4W
     Route: 042
  289. FURAZOLIDONE [Suspect]
     Active Substance: FURAZOLIDONE
     Indication: Product used for unknown indication
     Dosage: 12.5 MILLIGRAM, QD, DOSAGE FORM - NOT SPECIFIED
     Route: 042
  290. OSELTAMIVIR PHOSPHATE [Suspect]
     Active Substance: OSELTAMIVIR PHOSPHATE
     Indication: Product used for unknown indication
     Dosage: 133 MILLILITER, PRN
     Route: 054
  291. HERBALS [Suspect]
     Active Substance: HERBALS
     Indication: Nutritional supplementation
     Dosage: 12.5 G, PRN
     Route: 042
  292. HERBALS [Suspect]
     Active Substance: HERBALS
     Indication: Product used for unknown indication
     Dosage: DOSAGE FORM - LIQUID ORAL
     Route: 065
  293. FENOTEROL [Suspect]
     Active Substance: FENOTEROL
     Indication: Dyspnoea
     Dosage: 1 {DF}, TID
     Route: 050
  294. UNSPECIFIED INGREDIENT [Suspect]
     Active Substance: UNSPECIFIED INGREDIENT
     Indication: Anticoagulant therapy
     Dosage: 250 MILLILITRES, QD
     Route: 042
  295. UNSPECIFIED INGREDIENT [Suspect]
     Active Substance: UNSPECIFIED INGREDIENT
     Dosage: 50 MILLILETRES, QD
     Route: 042
  296. BETAMETHASONE DIPROPIONATE\CLIOQUINOL [Suspect]
     Active Substance: BETAMETHASONE DIPROPIONATE\CLIOQUINOL
     Indication: Swelling
     Dosage: QD, DOSAGE FORM - NOT SPECIFIED
     Route: 061
  297. HERBALS\PAULLINIA CUPANA SEED [Suspect]
     Active Substance: HERBALS\PAULLINIA CUPANA SEED
     Indication: Nutritional supplementation
     Dosage: 12.5 MG
     Route: 042
  298. .ALPHA.-TOCOPHEROL, DL- [Suspect]
     Active Substance: .ALPHA.-TOCOPHEROL, DL-
     Indication: Nutritional supplementation
     Dosage: 12.5 GRAM, PRN
     Route: 042
  299. MAALOX ANTACID [Suspect]
     Active Substance: ALUMINUM HYDROXIDE\DIMETHICONE\MAGNESIUM HYDROXIDE
     Indication: Constipation
     Dosage: DOSAGE FORM - NOT SPECIFIED
     Route: 054
  300. LUTEIN [Suspect]
     Active Substance: LUTEIN
     Indication: Nutritional supplementation
     Dosage: 12.5 GRAM, AS NEEDED
     Route: 042
  301. NOREPINEPHRINE BITARTRATE [Suspect]
     Active Substance: NOREPINEPHRINE BITARTRATE
     Indication: Stress
     Dosage: NORADRENALINE TARTRATE RENAUDI, 1 MG.QD
     Route: 048
  302. METAMIZOLE SODIUM [Suspect]
     Active Substance: METAMIZOLE SODIUM
     Indication: Vitamin supplementation
     Dosage: 5 MILLIGRAM, QD
     Route: 042
  303. METAMIZOLE SODIUM [Suspect]
     Active Substance: METAMIZOLE SODIUM
     Indication: Intentional product misuse
  304. POTASSIUM CHLORATE [Suspect]
     Active Substance: POTASSIUM CHLORATE
     Indication: Product used for unknown indication
     Dosage: 17 MG, QD
     Route: 048
  305. ISOPROPYL MYRISTATE [Suspect]
     Active Substance: ISOPROPYL MYRISTATE
     Indication: Constipation
     Dosage: 17 G, QD
     Route: 065
  306. ISOPROPYL MYRISTATE [Suspect]
     Active Substance: ISOPROPYL MYRISTATE
     Indication: Product used for unknown indication
  307. ISOPROPYL MYRISTATE [Suspect]
     Active Substance: ISOPROPYL MYRISTATE
     Indication: Intentional product misuse
  308. ISOPROPYL MYRISTATE [Suspect]
     Active Substance: ISOPROPYL MYRISTATE
     Indication: Off label use
  309. PANTHENOL [Suspect]
     Active Substance: PANTHENOL
     Indication: Constipation
     Dosage: 17 G, QD
     Route: 048
  310. PANTHENOL [Suspect]
     Active Substance: PANTHENOL
     Indication: Product used for unknown indication
  311. PANTHENOL [Suspect]
     Active Substance: PANTHENOL
     Indication: Off label use
  312. PANTHENOL [Suspect]
     Active Substance: PANTHENOL
     Indication: Intentional product misuse
  313. PHENOXYETHANOL [Suspect]
     Active Substance: PHENOXYETHANOL
     Indication: Constipation
     Dosage: 17 G, QD
     Route: 048
  314. PHENOXYETHANOL [Suspect]
     Active Substance: PHENOXYETHANOL
     Indication: Off label use
  315. PHENOXYETHANOL [Suspect]
     Active Substance: PHENOXYETHANOL
     Indication: Product used for unknown indication
  316. PHENOXYETHANOL [Suspect]
     Active Substance: PHENOXYETHANOL
     Indication: Intentional product misuse
  317. VITAMIN A PALMITATE [Suspect]
     Active Substance: VITAMIN A PALMITATE
     Indication: Constipation
     Dosage: 17 G, QD
     Route: 048
  318. VITAMIN A PALMITATE [Suspect]
     Active Substance: VITAMIN A PALMITATE
     Indication: Product used for unknown indication
  319. VITAMIN A PALMITATE [Suspect]
     Active Substance: VITAMIN A PALMITATE
     Indication: Intentional product misuse
  320. VITAMIN A PALMITATE [Suspect]
     Active Substance: VITAMIN A PALMITATE
     Indication: Off label use
  321. STEARIC ACID [Suspect]
     Active Substance: STEARIC ACID
     Indication: Constipation
     Dosage: 17 G, QD
     Route: 048
  322. STEARIC ACID [Suspect]
     Active Substance: STEARIC ACID
     Indication: Product used for unknown indication
  323. STEARIC ACID [Suspect]
     Active Substance: STEARIC ACID
     Indication: Off label use
  324. STEARIC ACID [Suspect]
     Active Substance: STEARIC ACID
     Indication: Product used for unknown indication
  325. STEARYL ALCOHOL [Suspect]
     Active Substance: STEARYL ALCOHOL
     Indication: Constipation
     Dosage: 17 G, QD
     Route: 048
  326. STEARYL ALCOHOL [Suspect]
     Active Substance: STEARYL ALCOHOL
     Indication: Product used for unknown indication
  327. STEARYL ALCOHOL [Suspect]
     Active Substance: STEARYL ALCOHOL
     Indication: Off label use
  328. STEARYL ALCOHOL [Suspect]
     Active Substance: STEARYL ALCOHOL
     Indication: Intentional product misuse
  329. .ALPHA.-TOCOPHEROL SUCCINATE, D- [Suspect]
     Active Substance: .ALPHA.-TOCOPHEROL SUCCINATE, D-
     Indication: Constipation
     Dosage: 17 G, QD
     Route: 048
  330. .ALPHA.-TOCOPHEROL SUCCINATE, D- [Suspect]
     Active Substance: .ALPHA.-TOCOPHEROL SUCCINATE, D-
     Indication: Intentional product misuse
  331. .ALPHA.-TOCOPHEROL SUCCINATE, D- [Suspect]
     Active Substance: .ALPHA.-TOCOPHEROL SUCCINATE, D-
     Indication: Off label use
  332. .ALPHA.-TOCOPHEROL SUCCINATE, D- [Suspect]
     Active Substance: .ALPHA.-TOCOPHEROL SUCCINATE, D-
     Indication: Product used for unknown indication
  333. SAFFLOWER [Suspect]
     Active Substance: SAFFLOWER
     Indication: Constipation
     Dosage: 17 G, QD
     Route: 048
  334. SAFFLOWER [Suspect]
     Active Substance: SAFFLOWER
     Indication: Off label use
  335. SAFFLOWER [Suspect]
     Active Substance: SAFFLOWER
     Indication: Product used for unknown indication
  336. SAFFLOWER [Suspect]
     Active Substance: SAFFLOWER
     Indication: Intentional product misuse
  337. GLYCERYL MONOSTEARATE [Suspect]
     Active Substance: GLYCERYL MONOSTEARATE
     Indication: Constipation
     Dosage: 17 G, QD
     Route: 048
  338. GLYCERYL MONOSTEARATE [Suspect]
     Active Substance: GLYCERYL MONOSTEARATE
     Indication: Intentional product misuse
  339. GLYCERYL MONOSTEARATE [Suspect]
     Active Substance: GLYCERYL MONOSTEARATE
     Indication: Product used for unknown indication
  340. GLYCERYL MONOSTEARATE [Suspect]
     Active Substance: GLYCERYL MONOSTEARATE
     Indication: Off label use
  341. CITRIC ACID [Suspect]
     Active Substance: CITRIC ACID MONOHYDRATE
     Indication: Nutritional supplementation
     Dosage: 12.5 G,PRN
     Route: 065
  342. MALTOSE [Suspect]
     Active Substance: MALTOSE
     Indication: Nutritional supplementation
     Dosage: 12.5 G, PRN
     Route: 065
  343. SODIUM BICARBONATE [Suspect]
     Active Substance: SODIUM BICARBONATE
     Indication: Nutritional supplementation
     Dosage: 12.5 G, PRN
     Route: 065
  344. FOSRENOL [Suspect]
     Active Substance: LANTHANUM CARBONATE
     Indication: Blood phosphorus increased
     Dosage: 500 MG, PRN
     Route: 065
  345. FOSRENOL [Suspect]
     Active Substance: LANTHANUM CARBONATE
     Indication: Hyperphosphataemia
     Dosage: 500 MG, QD
     Route: 048
  346. CHLORAMPHENICOL\HYDROCORTISONE ACETATE\METRONIDAZOLE\NATAMYCIN [Suspect]
     Active Substance: CHLORAMPHENICOL\HYDROCORTISONE ACETATE\METRONIDAZOLE\NATAMYCIN
     Indication: Bacterial infection
     Dosage: 500 MILLIGRAMS, ONCE EVERY 8 HOURS, DOSAGE FORM - NOT SPECIFIED
     Route: 065
  347. CHLORAMPHENICOL\HYDROCORTISONE ACETATE\METRONIDAZOLE\NATAMYCIN [Suspect]
     Active Substance: CHLORAMPHENICOL\HYDROCORTISONE ACETATE\METRONIDAZOLE\NATAMYCIN
     Indication: Anaemia
     Dosage: 1500 MILLIGRAMS, DOSAGE FORM - NOT SPECIFIED
     Route: 065
  348. SOYBEAN OIL [Suspect]
     Active Substance: SOYBEAN OIL
     Indication: Constipation
     Dosage: 17 G, QD
     Route: 048
  349. SOYBEAN OIL [Suspect]
     Active Substance: SOYBEAN OIL
     Indication: Product used for unknown indication
  350. SOYBEAN OIL [Suspect]
     Active Substance: SOYBEAN OIL
     Indication: Off label use
  351. SOYBEAN OIL [Suspect]
     Active Substance: SOYBEAN OIL
     Indication: Intentional product misuse
  352. BISMUTH HYDROXIDE [Suspect]
     Active Substance: BISMUTH HYDROXIDE
     Indication: Constipation
     Dosage: 133 ML, AS NECESSARY
     Route: 054
  353. BUFEXAMAC\LIDOCAINE HYDROCHLORIDE [Suspect]
     Active Substance: BUFEXAMAC\LIDOCAINE HYDROCHLORIDE
     Indication: Constipation
     Dosage: 133 ML, AS NECESSARY
     Route: 054
  354. TITANIUM [Suspect]
     Active Substance: TITANIUM
     Indication: Constipation
     Dosage: 133 ML, AS NECESSARY
     Route: 065
  355. HERBALS [Suspect]
     Active Substance: HERBALS
     Indication: Nutritional supplementation
     Dosage: 12.5 MG
     Route: 065
  356. ZOCOR [Suspect]
     Active Substance: SIMVASTATIN
     Indication: Blood cholesterol increased
     Dosage: 40 MG, QD
     Route: 048
  357. CALCIUM\VITAMIN D [Suspect]
     Active Substance: CALCIUM\VITAMIN D
     Indication: Product used for unknown indication
     Dosage: DOSAGE FORM - NOT SPECIFIED
     Route: 065
  358. TRELEGY ELLIPTA [Suspect]
     Active Substance: FLUTICASONE FUROATE\UMECLIDINIUM BROMIDE\VILANTEROL TRIFENATATE
     Indication: Product used for unknown indication
     Route: 065
  359. TRELEGY ELLIPTA [Suspect]
     Active Substance: FLUTICASONE FUROATE\UMECLIDINIUM BROMIDE\VILANTEROL TRIFENATATE
     Indication: Off label use
  360. TRELEGY ELLIPTA [Suspect]
     Active Substance: FLUTICASONE FUROATE\UMECLIDINIUM BROMIDE\VILANTEROL TRIFENATATE
     Indication: Intentional product misuse
  361. SODIUM PHOSPHATE, MONOBASIC [Suspect]
     Active Substance: SODIUM PHOSPHATE, MONOBASIC
     Indication: Constipation
     Dosage: 133 ML, PRN, AS NECESSARY
     Route: 065
  362. MEDIUM-CHAIN TRIGLYCERIDES [Suspect]
     Active Substance: MEDIUM-CHAIN TRIGLYCERIDES
     Indication: Constipation
     Dosage: 17 G, QD
     Route: 048
  363. MEDIUM-CHAIN TRIGLYCERIDES [Suspect]
     Active Substance: MEDIUM-CHAIN TRIGLYCERIDES
     Indication: Off label use
  364. MEDIUM-CHAIN TRIGLYCERIDES [Suspect]
     Active Substance: MEDIUM-CHAIN TRIGLYCERIDES
     Indication: Intentional product misuse
  365. MEDIUM-CHAIN TRIGLYCERIDES [Suspect]
     Active Substance: MEDIUM-CHAIN TRIGLYCERIDES
     Indication: Product used for unknown indication
  366. HERBALS [Suspect]
     Active Substance: HERBALS
     Indication: Constipation
     Dosage: 17 G, QD
     Route: 065
  367. .ALPHA.-TOCOPHEROL [Suspect]
     Active Substance: .ALPHA.-TOCOPHEROL
     Indication: Constipation
     Dosage: 17 G, QD
     Route: 065
  368. VILANTEROL TRIFENATATE [Suspect]
     Active Substance: VILANTEROL TRIFENATATE
     Indication: Product used for unknown indication
     Dosage: 1 IU, QD
     Route: 048
  369. VILANTEROL TRIFENATATE [Suspect]
     Active Substance: VILANTEROL TRIFENATATE
     Indication: Dyspnoea
  370. CHLORPHENIRAMINE [Suspect]
     Active Substance: CHLORPHENIRAMINE
     Indication: Thrombosis
     Dosage: 2.5 ML, AS NEEDED
     Route: 048
  371. CHLORPHENIRAMINE [Suspect]
     Active Substance: CHLORPHENIRAMINE
     Dosage: 2.5 ML, AS NEEDED
     Route: 048
  372. OTRIVIN [Suspect]
     Active Substance: XYLOMETAZOLINE
     Indication: Dyspnoea
  373. FIASP [Suspect]
     Active Substance: INSULIN ASPART
     Indication: Diabetes mellitus
     Dosage: DOSAGE FORRM - NOT SPECIFIED
     Route: 058
  374. HYDROMORPHONE HYDROCHLORIDE [Suspect]
     Active Substance: HYDROMORPHONE HYDROCHLORIDE
     Indication: Analgesic therapy
     Dosage: 1 MG, Q4H, DOSAGE FORM - SOLUTION INTRAMUSCULAR
     Route: 058
     Dates: start: 20200529
  375. HYDROMORPHONE HYDROCHLORIDE [Suspect]
     Active Substance: HYDROMORPHONE HYDROCHLORIDE
     Indication: Off label use
     Dosage: 6 MILLIGRAM,4X A DAY, DOSAGE FORM - SOLUTION INTRAMUSCULAR
     Route: 058
  376. HYDROMORPHONE HYDROCHLORIDE [Suspect]
     Active Substance: HYDROMORPHONE HYDROCHLORIDE
     Indication: Product used for unknown indication
     Dosage: 1 MG, QD
     Route: 058
  377. HYDROMORPHONE HYDROCHLORIDE [Suspect]
     Active Substance: HYDROMORPHONE HYDROCHLORIDE
     Dosage: 96 MG, QD
     Route: 058
  378. HYDROMORPHONE HYDROCHLORIDE [Suspect]
     Active Substance: HYDROMORPHONE HYDROCHLORIDE
     Dosage: 17 ML (1 EVERY 1 DAYS)
     Route: 065
  379. HYDROMORPHONE HYDROCHLORIDE [Suspect]
     Active Substance: HYDROMORPHONE HYDROCHLORIDE
     Dosage: 1 MILLIGRAM
     Route: 058
  380. HYDROMORPHONE HYDROCHLORIDE [Suspect]
     Active Substance: HYDROMORPHONE HYDROCHLORIDE
     Dosage: 1 MG (1 EVERY 6 DAYS)
     Route: 058
  381. HYDROMORPHONE HYDROCHLORIDE [Suspect]
     Active Substance: HYDROMORPHONE HYDROCHLORIDE
     Dosage: 24 MG, (1 EVERY 4 HOURS), DOSAGE FORM - SOLUTION INTRAMUSCULARUNK
     Route: 058
  382. HYDROMORPHONE HYDROCHLORIDE [Suspect]
     Active Substance: HYDROMORPHONE HYDROCHLORIDE
     Dosage: 24 MG, QD, DOSAGE FORM - SOLUTION INTRAMUSCULAR
     Route: 058
  383. HYDROMORPHONE HYDROCHLORIDE [Suspect]
     Active Substance: HYDROMORPHONE HYDROCHLORIDE
     Dosage: 6 MG(1 EVERY 6 HOURS), DOSAGE FORM - SOLUTION INTRAMUSCULARUNK
     Route: 058
  384. HYDROMORPHONE HYDROCHLORIDE [Suspect]
     Active Substance: HYDROMORPHONE HYDROCHLORIDE
     Dosage: 1 MG (1 EVERY 4 HOURS), DOSAGE FORM - SOLUTION INTRAMUSCULAR
     Route: 058
  385. HYDROMORPHONE HYDROCHLORIDE [Suspect]
     Active Substance: HYDROMORPHONE HYDROCHLORIDE
     Dosage: 4 MG, Q4H, DOSAGE FORM - SOLUTION INTRAMUSCULAR
     Route: 065
  386. HYDROMORPHONE HYDROCHLORIDE [Suspect]
     Active Substance: HYDROMORPHONE HYDROCHLORIDE
     Dosage: 6 MG, Q4H, DOSAGE FORM - SOLUTION INTRAMUSCULAR
     Route: 058
  387. WARFARIN SODIUM [Suspect]
     Active Substance: WARFARIN SODIUM
     Indication: Thrombosis
     Dosage: 2 MILLIGRAMS
     Route: 048
  388. WARFARIN SODIUM [Suspect]
     Active Substance: WARFARIN SODIUM
     Dosage: 2 GRAMS (1 EVERY 1 DAYS)
     Route: 048
  389. CARBOHYDRATES\ELECTROLYTES NOS\MINERALS\PROTEIN\VITAMINS [Suspect]
     Active Substance: CARBOHYDRATES\ELECTROLYTES NOS\MINERALS\PROTEIN\VITAMINS
     Indication: Vitamin supplementation
     Dosage: 5 MILLIGRAMS
     Route: 042
  390. CARBOHYDRATES\ELECTROLYTES NOS\MINERALS\PROTEIN\VITAMINS [Suspect]
     Active Substance: CARBOHYDRATES\ELECTROLYTES NOS\MINERALS\PROTEIN\VITAMINS
     Dosage: 5 MILLIGRAMS, QD
     Route: 065
  391. SODIUM PHOSPHATE, MONOBASIC, ANHYDROUS [Suspect]
     Active Substance: SODIUM PHOSPHATE, MONOBASIC, ANHYDROUS
     Indication: Constipation
     Dosage: 133 ML AS REQUIRED
     Route: 054
  392. BISMUTH [Suspect]
     Active Substance: BISMUTH
     Dosage: 133 ML AS REQUIRED EVERY ONE DAY
     Route: 054
  393. BISMUTH SUBNITRATE [Suspect]
     Active Substance: BISMUTH SUBNITRATE
     Indication: Constipation
     Dosage: 133 ML AS REQUIRED
     Route: 065
  394. DEXTROSE\HEPARIN SODIUM [Suspect]
     Active Substance: DEXTROSE\HEPARIN SODIUM
     Indication: Anticoagulant therapy
     Dosage: 50 MILLILITRES, QD
     Route: 042
  395. DEXTROSE\HEPARIN SODIUM [Suspect]
     Active Substance: DEXTROSE\HEPARIN SODIUM
     Dosage: 12 GRAMS
     Route: 065
  396. DEXTROSE\HEPARIN SODIUM [Suspect]
     Active Substance: DEXTROSE\HEPARIN SODIUM
     Dosage: 250 ML, QD, DOSAGE FORM - SOLUTION INTRAVENOUS
     Route: 042
  397. DEXTROSE\HEPARIN SODIUM [Suspect]
     Active Substance: DEXTROSE\HEPARIN SODIUM
     Dosage: 50 MILLILITRES, QD
     Route: 065
  398. DEXTROSE\HEPARIN SODIUM [Suspect]
     Active Substance: DEXTROSE\HEPARIN SODIUM
     Dosage: 50 ML, DOSAGE FORM - SOLUTION INTRAVENOUS
     Route: 042
  399. DEXTROSE\HEPARIN SODIUM [Suspect]
     Active Substance: DEXTROSE\HEPARIN SODIUM
     Dosage: UNK
     Route: 042
  400. DEXTROSE\SODIUM CHLORIDE [Suspect]
     Active Substance: DEXTROSE\SODIUM CHLORIDE
     Indication: Nutritional supplementation
     Dosage: 12.5 GRAMS, QD
     Route: 042
  401. DEXTROSE\SODIUM CHLORIDE [Suspect]
     Active Substance: DEXTROSE\SODIUM CHLORIDE
     Indication: Product used for unknown indication
     Dosage: 12.5 GRAMS
     Route: 042
  402. DEXTROSE\SODIUM CHLORIDE [Suspect]
     Active Substance: DEXTROSE\SODIUM CHLORIDE
     Dosage: 12.5 GRAMS
     Route: 065
  403. PANAX GINSENG WHOLE [Suspect]
     Active Substance: PANAX GINSENG WHOLE
     Indication: Nutritional supplementation
     Dosage: 12 MG, AS REQUIRED, DOSAGE FORM - NOT SPECIFIED
     Route: 065
  404. LYPRESSIN [Suspect]
     Active Substance: LYPRESSIN
     Indication: Drug therapy
     Route: 042
  405. MAGNESIUM OXIDE [Suspect]
     Active Substance: MAGNESIUM OXIDE
     Indication: Constipation
     Dosage: 133 ML, DOSAGE FORM: NOT SPECIFIED, FREQUENCY: AS REQUIRED
     Route: 065
  406. MAGNESIUM OXIDE [Suspect]
     Active Substance: MAGNESIUM OXIDE
     Indication: Product used for unknown indication
     Dosage: 133 ML, DOSAGE FORM: NOT SPECIFIED, FREQUENCY: AS REQUIRED
     Route: 054
  407. XYLOMETAZOLINE [Suspect]
     Active Substance: XYLOMETAZOLINE
     Indication: Dyspnoea
     Route: 042
  408. XYLOMETAZOLINE [Suspect]
     Active Substance: XYLOMETAZOLINE
     Dosage: ONCE EVERY DAY
     Route: 050
  409. DIETARY SUPPLEMENT [Suspect]
     Active Substance: DIETARY SUPPLEMENT
     Indication: Vitamin supplementation
     Dosage: 10 MG, ONCE DAILY
     Route: 065
  410. DIETARY SUPPLEMENT [Suspect]
     Active Substance: DIETARY SUPPLEMENT
     Indication: Product used for unknown indication
     Dosage: 5 MG, ONCE DAILY, DOSAGE FORM - POWDER
     Route: 042
  411. ANHYDROUS CITRIC ACID\MAGNESIUM OXIDE\SODIUM PICOSULFATE [Suspect]
     Active Substance: ANHYDROUS CITRIC ACID\MAGNESIUM OXIDE\SODIUM PICOSULFATE
     Indication: Constipation
     Dosage: 10 MG, DOSAGE FORM: POWDER FOR SOLUTION FOR ORAL
     Route: 065
  412. DEXILANT [Suspect]
     Active Substance: DEXLANSOPRAZOLE
     Indication: Product used for unknown indication
     Dosage: 60 MG, ONE DAYS (CAPSULE DELAYED RELEASE)
     Route: 065
  413. HERBALS [Suspect]
     Active Substance: HERBALS
     Indication: Nutritional supplementation
     Dosage: 12.5 MG, DOSAGE FORM - NOT SPECIFIED
     Route: 042
  414. ASIAN GINSENG [Suspect]
     Active Substance: ASIAN GINSENG
     Indication: Nutritional supplementation
     Dosage: 12.5 MG, DOSAGE FORM - NOT SPECIFIED
     Route: 065
  415. RINGERS AND DEXTROSE SOLUTION [Suspect]
     Active Substance: CALCIUM CHLORIDE\DEXTROSE\POTASSIUM CHLORIDE\SODIUM CHLORIDE
     Indication: Nutritional supplementation
     Route: 065
  416. LUTEIN [Suspect]
     Active Substance: LUTEIN
     Indication: Nutritional supplementation
     Dosage: 12 GRAMS AS REQUIRED, DOSAGE FORM - NOT SPECIFIED
     Route: 042
  417. LUTEIN [Suspect]
     Active Substance: LUTEIN
     Indication: Off label use
  418. LUTEIN [Suspect]
     Active Substance: LUTEIN
     Indication: Intentional product misuse
  419. BREO ELLIPTA [Suspect]
     Active Substance: FLUTICASONE FUROATE\VILANTEROL TRIFENATATE
     Indication: Product used for unknown indication
     Dosage: 1 IU, ONCE A DAY
  420. BREO ELLIPTA [Suspect]
     Active Substance: FLUTICASONE FUROATE\VILANTEROL TRIFENATATE
     Indication: Nutritional supplementation
  421. LEVOPHED [Suspect]
     Active Substance: NOREPINEPHRINE BITARTRATE
     Indication: Stress
     Dosage: SOLUTION INTRAVENOUS
     Route: 042
  422. LEVOPHED [Suspect]
     Active Substance: NOREPINEPHRINE BITARTRATE
     Dosage: SOLUTION INTRAVENOUS
     Route: 048
  423. LEVOPHED [Suspect]
     Active Substance: NOREPINEPHRINE BITARTRATE
     Dosage: 3 MG ONCE EVERY DAY
     Route: 048
  424. WARFARIN SODIUM [Suspect]
     Active Substance: WARFARIN SODIUM
     Indication: Thrombosis
     Dosage: COUMADIN /00014802/, 2 GRAMS, QD
     Route: 048
  425. WARFARIN SODIUM [Suspect]
     Active Substance: WARFARIN SODIUM
     Dosage: COUMADIN /00014802/, 2 ML, ONCE A DAY
     Route: 048
  426. WARFARIN SODIUM [Suspect]
     Active Substance: WARFARIN SODIUM
     Dosage: 2 MILLIGRAMS, QD
     Route: 065
  427. POTASSIUM PERCHLORATE [Suspect]
     Active Substance: POTASSIUM PERCHLORATE
     Indication: Product used for unknown indication
     Dosage: 17 MG, ONCE EVERY DAY
     Route: 048
  428. DEXPANTHENOL [Suspect]
     Active Substance: DEXPANTHENOL
     Indication: Product used for unknown indication
     Dosage: 17 GRAM, QD
     Route: 048
  429. DEXPANTHENOL [Suspect]
     Active Substance: DEXPANTHENOL
     Indication: Off label use
  430. DEXPANTHENOL [Suspect]
     Active Substance: DEXPANTHENOL
     Indication: Intentional product misuse
  431. DEXPANTHENOL [Suspect]
     Active Substance: DEXPANTHENOL
     Indication: Constipation
  432. POLYETHYLENE GLYCOL 3350\POTASSIUM CHLORIDE\SODIUM BICARBONATE\SODIUM [Suspect]
     Active Substance: POLYETHYLENE GLYCOL 3350\POTASSIUM CHLORIDE\SODIUM BICARBONATE\SODIUM CHLORIDE\SODIUM SULFATE
     Indication: Constipation
     Dosage: 17 MILLIGRAMS (1 EVERY 1 DAYS)
     Route: 065
  433. POLYETHYLENE GLYCOL 3350\POTASSIUM CHLORIDE\SODIUM BICARBONATE\SODIUM [Suspect]
     Active Substance: POLYETHYLENE GLYCOL 3350\POTASSIUM CHLORIDE\SODIUM BICARBONATE\SODIUM CHLORIDE\SODIUM SULFATE
     Dosage: 133 MILLILITRES
     Route: 054
  434. .BETA.-CAROTENE [Suspect]
     Active Substance: .BETA.-CAROTENE
     Indication: Nutritional supplementation
     Dosage: 12.5 IU (INTERNATIONAL UNIT), AS REQUIRED
     Route: 042
  435. DIETARY SUPPLEMENT\HERBALS [Suspect]
     Active Substance: DIETARY SUPPLEMENT\HERBALS
     Indication: Nutritional supplementation
     Dosage: 12.5 GRAMS
     Route: 042
  436. BETAMETHASONE DIPROPIONATE [Suspect]
     Active Substance: BETAMETHASONE DIPROPIONATE
     Indication: Swelling
     Dosage: QD, DOSAGE FORM - NOT SPECIFIED
     Route: 061
  437. MINERALS\VITAMINS [Suspect]
     Active Substance: MINERALS\VITAMINS
     Indication: Vitamin supplementation
     Dosage: 5 MILLIGRAMS, QD
     Route: 042
  438. FERROUS SUCCINATE [Suspect]
     Active Substance: FERROUS SUCCINATE
     Indication: Iron deficiency
     Dosage: ONCE EVERY IN 6 HOURS
     Route: 042
  439. HERBALS\PLANTAGO OVATA SEED COAT [Suspect]
     Active Substance: HERBALS\PLANTAGO OVATA SEED COAT
     Indication: Vitamin supplementation
     Dosage: 5 MILLIGRAMS, QD, DOSAGE FORM - POWDER
     Route: 042
  440. HERBALS\PLANTAGO OVATA SEED COAT [Suspect]
     Active Substance: HERBALS\PLANTAGO OVATA SEED COAT
     Indication: Product used for unknown indication
  441. DOBUTAMINE [Suspect]
     Active Substance: DOBUTAMINE HYDROCHLORIDE
     Indication: Product used for unknown indication
     Dosage: QD, DOSAGE FORM - LIQUID INTRAVENOUS
     Route: 042
  442. DOBUTAMINE [Suspect]
     Active Substance: DOBUTAMINE HYDROCHLORIDE
     Indication: Off label use
     Dosage: DOSAGE FORM - LIQUID INTRAVENOUS
     Route: 065
  443. DOBUTAMINE [Suspect]
     Active Substance: DOBUTAMINE HYDROCHLORIDE
     Indication: Cardiogenic shock
  444. FLUTICASONE PROPIONATE\SALMETEROL XINAFOATE [Suspect]
     Active Substance: FLUTICASONE PROPIONATE\SALMETEROL XINAFOATE
     Indication: Dyspnoea
     Dosage: 1 IU(INTERNATIONAL UNIT), DOSAGE FORM - NOT SPECIFIED
     Route: 048
  445. FLUTICASONE FUROATE\VILANTEROL TRIFENATATE [Suspect]
     Active Substance: FLUTICASONE FUROATE\VILANTEROL TRIFENATATE
     Indication: Dyspnoea
     Dosage: 1.0 IU (INTERNATIONAL UNIT), QD
     Route: 048
  446. FLUTICASONE FUROATE\VILANTEROL TRIFENATATE [Suspect]
     Active Substance: FLUTICASONE FUROATE\VILANTEROL TRIFENATATE
     Indication: Nutritional supplementation
     Dosage: 1.0 IU (INTERNATIONAL UNIT), QD
     Route: 065
  447. FLUTICASONE FUROATE\VILANTEROL TRIFENATATE [Suspect]
     Active Substance: FLUTICASONE FUROATE\VILANTEROL TRIFENATATE
     Indication: Product used for unknown indication
     Dosage: UNK
     Route: 058
  448. FLUTICASONE FUROATE\VILANTEROL TRIFENATATE [Suspect]
     Active Substance: FLUTICASONE FUROATE\VILANTEROL TRIFENATATE
     Indication: Blood phosphorus increased
  449. FENOTEROL HYDROBROMIDE\IPRATROPIUM BROMIDE [Suspect]
     Active Substance: FENOTEROL HYDROBROMIDE\IPRATROPIUM BROMIDE
     Indication: Dyspnoea
     Dosage: 3 DF, QD
     Route: 065
  450. FENOTEROL HYDROBROMIDE\IPRATROPIUM BROMIDE [Suspect]
     Active Substance: FENOTEROL HYDROBROMIDE\IPRATROPIUM BROMIDE
     Dosage: 1 DF, TWICE EVERY DAY
     Route: 065
  451. FENOTEROL HYDROBROMIDE\IPRATROPIUM BROMIDE [Suspect]
     Active Substance: FENOTEROL HYDROBROMIDE\IPRATROPIUM BROMIDE
     Dosage: 4.0 IU (INTERNATIONAL UNIT), QD
     Route: 050
  452. HEPARIN CALCIUM [Suspect]
     Active Substance: HEPARIN CALCIUM
     Indication: Anticoagulant therapy
     Dosage: 50 ML, AS REQUIRED, DOSAGE FORM - NOT SPECIFIED
     Route: 042
  453. HYDROCORTISONE [Suspect]
     Active Substance: HYDROCORTISONE
     Indication: Angioedema
     Dosage: 100 MG, VIA PARENTERAL ROUTE, DOSAGE FOEM - NOT SPECIFIED
     Route: 042
  454. INSULIN NOS [Suspect]
     Active Substance: INSULIN NOS
     Dosage: DOSAGE FORM - NOT SPECIFIED
     Route: 065
  455. INSULIN PORK\INSULIN PURIFIED PORK [Suspect]
     Active Substance: INSULIN PORK\INSULIN PURIFIED PORK
     Indication: Diabetes mellitus
     Route: 065
  456. ELECTROLYTES NOS\POLYETHYLENE GLYCOLS [Suspect]
     Active Substance: ELECTROLYTES NOS\POLYETHYLENE GLYCOLS
     Indication: Iron deficiency
     Dosage: 17 MG, QD, DOSAGE FORM - NOT SPECIFIED
     Route: 048
  457. ELECTROLYTES NOS\POLYETHYLENE GLYCOLS [Suspect]
     Active Substance: ELECTROLYTES NOS\POLYETHYLENE GLYCOLS
     Indication: Constipation
     Dosage: 17 GM, DOSAGE FORM - NOT SPECIFIED
     Route: 048
  458. ELECTROLYTES NOS\POLYETHYLENE GLYCOLS [Suspect]
     Active Substance: ELECTROLYTES NOS\POLYETHYLENE GLYCOLS
     Dosage: 3 MG, 1 EVERY 1 WEEKS, DOSAGE FORM - NOT SPECIFIED
     Route: 065
  459. MAGNESIUM CARBONATE [Suspect]
     Active Substance: MAGNESIUM CARBONATE
     Indication: Constipation
     Dosage: 133 ML, AS REQUIRED, DOSAGE FORM - NOT SPECIFIED
     Route: 065
  460. MAGNESIUM TRISILICATE [Suspect]
     Active Substance: MAGNESIUM TRISILICATE
     Indication: Constipation
     Dosage: 133 ML, AS REQUIRED
     Route: 065
  461. POTASSIUM [Suspect]
     Active Substance: POTASSIUM
     Indication: Product used for unknown indication
     Route: 065
  462. TRISODIUM CITRATE DIHYDRATE [Suspect]
     Active Substance: TRISODIUM CITRATE DIHYDRATE
     Indication: Thrombosis
     Dosage: 2.5 MG, QD, DOSAGE FORM - NOT SPECIFIED
     Route: 065
  463. TRISODIUM CITRATE DIHYDRATE [Suspect]
     Active Substance: TRISODIUM CITRATE DIHYDRATE
     Dosage: 2.5 ML, DOSAGE FORM - NOT SPECIFIED
     Route: 065
  464. ALBUTEROL\THEOPHYLLINE [Suspect]
     Active Substance: ALBUTEROL\THEOPHYLLINE
     Indication: Off label use
     Dosage: 4 DF, 1 EVERY 6 WEEKS
     Route: 065
  465. ALBUTEROL\THEOPHYLLINE [Suspect]
     Active Substance: ALBUTEROL\THEOPHYLLINE
     Indication: Intentional product misuse
     Dosage: 4 DF, QD
     Route: 065
  466. ALBUTEROL\THEOPHYLLINE [Suspect]
     Active Substance: ALBUTEROL\THEOPHYLLINE
     Indication: Chronic obstructive pulmonary disease
     Dosage: 1 DF, ONCE EVERY 6 HOURS
     Route: 065
  467. PYRIDOXINE [Suspect]
     Active Substance: PYRIDOXINE
     Indication: Vitamin supplementation
     Dosage: 10 MG
     Route: 048
  468. PYRIDOXINE [Suspect]
     Active Substance: PYRIDOXINE
     Indication: Product used for unknown indication
     Dosage: 10 IU (INTERNATIONAL UNIT), QD
     Route: 048
  469. PYRIDOXINE [Suspect]
     Active Substance: PYRIDOXINE
     Indication: Off label use
     Dosage: QD
     Route: 048
  470. PYRIDOXINE [Suspect]
     Active Substance: PYRIDOXINE
     Indication: Constipation
     Dosage: 4 IU (INTERNATIONAL UNIT), 1EVERY 6 HOURS
     Route: 048
  471. PYRIDOXINE [Suspect]
     Active Substance: PYRIDOXINE
     Indication: Analgesic therapy
     Dosage: 4 IU (INTERNATIONAL UNIT), QD
     Route: 048
  472. VITAMIN E [Suspect]
     Active Substance: .ALPHA.-TOCOPHEROL
     Indication: Nutritional supplementation
     Dosage: 12.5 GM
     Route: 042
  473. ACETAMINOPHEN [Suspect]
     Active Substance: ACETAMINOPHEN
     Indication: Analgesic therapy
     Dosage: 5 ML, QD
     Route: 042
  474. ACETAMINOPHEN [Suspect]
     Active Substance: ACETAMINOPHEN
     Dosage: 650 MG, QD
     Route: 048
  475. TRESIBA [Suspect]
     Active Substance: INSULIN DEGLUDEC
     Indication: Diabetes mellitus
     Dosage: DOSAGE FORM - SOLUTION SUBCUTANEOUS 1 DF, QD
     Route: 058
  476. TRESIBA [Suspect]
     Active Substance: INSULIN DEGLUDEC
     Dosage: DOSAGE FORM - SOLUTION SUBCUTANEOUS
     Route: 058
  477. TAMIFLU [Suspect]
     Active Substance: OSELTAMIVIR PHOSPHATE
     Indication: Product used for unknown indication
     Dosage: 133 ML, DOSAGE FORM - NOT SPECIFIED
     Route: 065
  478. TAMIFLU [Suspect]
     Active Substance: OSELTAMIVIR PHOSPHATE
     Indication: Chronic obstructive pulmonary disease
     Dosage: 12.5 MG, DOSAGE FORM - NOT SPECIFIED
     Route: 065
  479. ASCORBIC ACID [Concomitant]
     Active Substance: ASCORBIC ACID
     Indication: Constipation
     Dosage: 17 G, QD
     Route: 065
  480. CALCIUM GLUCONATE [Concomitant]
     Active Substance: CALCIUM GLUCONATE
     Dosage: DOSAGE FORM - NOT SPECIFIED
     Route: 065
  481. ALBUTEROL [Concomitant]
     Active Substance: ALBUTEROL
     Indication: Chronic obstructive pulmonary disease
  482. HYDROMORPHONE [Concomitant]
     Active Substance: HYDROMORPHONE
     Route: 065
  483. RIBOFLAVIN 5^-PHOSPHATE [Concomitant]
     Active Substance: RIBOFLAVIN 5^-PHOSPHATE
     Route: 065
  484. VITAMIN D3 [Concomitant]
     Active Substance: CHOLECALCIFEROL
     Indication: Off label use
     Dosage: AS REQUIRED
     Route: 065
  485. POTASSIUM CHLORIDE [Concomitant]
     Active Substance: POTASSIUM CHLORIDE
     Indication: Product used for unknown indication
     Dosage: 17 MILLIGRAMS (1 EVERY 1 DAYS)
     Route: 065
  486. POTASSIUM CHLORIDE [Concomitant]
     Active Substance: POTASSIUM CHLORIDE
     Indication: Constipation
     Dosage: 17 GRAMS (1 EVERY 1 DAYS)
     Route: 048
  487. DISODIUM HYDROGEN CITRATE [Concomitant]
     Active Substance: DISODIUM HYDROGEN CITRATE
     Indication: Thrombosis
     Dosage: 2.5 MILLILETRES
     Route: 065
  488. UMECLIDINIUM BROMIDE\VILANTEROL TRIFENATATE [Concomitant]
     Active Substance: UMECLIDINIUM BROMIDE\VILANTEROL TRIFENATATE
     Indication: Dyspnoea
     Dosage: 1 IU (INTERNATIONAL UNIT), QD
     Route: 048
  489. SIMVASTATIN [Concomitant]
     Active Substance: SIMVASTATIN
     Indication: Blood cholesterol increased
     Route: 065
  490. .BETA.-CAROTENE [Concomitant]
     Active Substance: .BETA.-CAROTENE
     Indication: Product used for unknown indication
     Dosage: UNKNOWN, AS REQUIRED
     Route: 065
  491. .BETA.-CAROTENE [Concomitant]
     Active Substance: .BETA.-CAROTENE
     Indication: Nutritional supplementation
  492. DOBUTAMINE HYDROCHLORIDE [Concomitant]
     Active Substance: DOBUTAMINE HYDROCHLORIDE
     Indication: Cardiogenic shock
     Dosage: INTRAVENOUS (NOT OTHERWISE SPECIFIED)
     Route: 042
  493. AMLODIPINE MALEATE [Concomitant]
     Active Substance: AMLODIPINE MALEATE
     Route: 065
  494. DISODIUM HYDROGEN CITRATE [Concomitant]
     Active Substance: DISODIUM HYDROGEN CITRATE
     Indication: Thrombosis
     Dosage: 2.5 MILLIGRAMS (1 EVERY 1 DAYS)
     Route: 065

REACTIONS (24)
  - Death [Fatal]
  - Ventricular fibrillation [Fatal]
  - Constipation [Fatal]
  - Ascites [Fatal]
  - Abdominal distension [Fatal]
  - Sepsis [Fatal]
  - Appendicolith [Fatal]
  - General physical health deterioration [Fatal]
  - Multiple organ dysfunction syndrome [Fatal]
  - Stress [Fatal]
  - Cardiogenic shock [Fatal]
  - Appendicitis [Fatal]
  - Off label use [Fatal]
  - Blood phosphorus increased [Fatal]
  - Condition aggravated [Fatal]
  - Myasthenia gravis [Fatal]
  - Blood cholesterol increased [Fatal]
  - Blood uric acid increased [Fatal]
  - Dry mouth [Fatal]
  - Hyponatraemia [Fatal]
  - Somnolence [Fatal]
  - Abdominal pain [Fatal]
  - Vomiting [Fatal]
  - Nausea [Fatal]

NARRATIVE: CASE EVENT DATE: 20200601
